FAERS Safety Report 18152948 (Version 7)
Quarter: 2023Q2

REPORT INFORMATION
  Report Type: Report from Study
  Country: US (occurrence: US)
  Receive Date: 20200814
  Receipt Date: 20230518
  Transmission Date: 20230721
  Serious: Yes (Other)
  Sender: FDA-Public Use
  Company Number: US-JAZZ-2020-US-010211

PATIENT
  Age: 21 Year
  Sex: Female

DRUGS (784)
  1. XYREM [Suspect]
     Active Substance: SODIUM OXYBATE
     Indication: Narcolepsy
     Dosage: DOSE ADJUSTMENT
     Route: 048
     Dates: start: 201810, end: 201811
  2. XYREM [Suspect]
     Active Substance: SODIUM OXYBATE
     Indication: Cataplexy
     Dosage: 4.5 GRAM, BID
     Route: 048
     Dates: start: 201811
  3. XYREM [Suspect]
     Active Substance: SODIUM OXYBATE
     Indication: Somnolence
  4. PROPRANOLOL [Suspect]
     Active Substance: PROPRANOLOL HYDROCHLORIDE
     Indication: Product used for unknown indication
     Dosage: UNK
     Dates: end: 202008
  5. ARMODAFINIL [Suspect]
     Active Substance: ARMODAFINIL
     Indication: Product used for unknown indication
     Dosage: UNKNOWN DOSE AND FREQUENCY
  6. WELLBUTRIN [Suspect]
     Active Substance: BUPROPION HYDROCHLORIDE
     Indication: Product used for unknown indication
     Dosage: UNKNOWN DOSE AND FREQUENCY
     Route: 065
  7. ALLEGRA D-12 HOUR [Concomitant]
     Active Substance: FEXOFENADINE HYDROCHLORIDE\PSEUDOEPHEDRINE HYDROCHLORIDE
     Indication: Product used for unknown indication
     Dosage: UNK
     Dates: start: 201909, end: 202008
  8. ADDERALL [Concomitant]
     Active Substance: AMPHETAMINE ASPARTATE\AMPHETAMINE SULFATE\DEXTROAMPHETAMINE SACCHARATE\DEXTROAMPHETAMINE SULFATE
     Indication: Product used for unknown indication
     Dosage: UNK
     Dates: end: 202008
  9. ADDERALL [Concomitant]
     Active Substance: AMPHETAMINE ASPARTATE\AMPHETAMINE SULFATE\DEXTROAMPHETAMINE SACCHARATE\DEXTROAMPHETAMINE SULFATE
     Dosage: UNK
     Dates: end: 202008
  10. ADDERALL [Concomitant]
     Active Substance: AMPHETAMINE ASPARTATE\AMPHETAMINE SULFATE\DEXTROAMPHETAMINE SACCHARATE\DEXTROAMPHETAMINE SULFATE
     Dosage: UNK
     Dates: end: 202008
  11. ADDERALL [Concomitant]
     Active Substance: AMPHETAMINE ASPARTATE\AMPHETAMINE SULFATE\DEXTROAMPHETAMINE SACCHARATE\DEXTROAMPHETAMINE SULFATE
     Dosage: UNK
     Dates: end: 202008
  12. ADDERALL [Concomitant]
     Active Substance: AMPHETAMINE ASPARTATE\AMPHETAMINE SULFATE\DEXTROAMPHETAMINE SACCHARATE\DEXTROAMPHETAMINE SULFATE
     Dosage: UNK
     Dates: end: 202008
  13. ADDERALL [Concomitant]
     Active Substance: AMPHETAMINE ASPARTATE\AMPHETAMINE SULFATE\DEXTROAMPHETAMINE SACCHARATE\DEXTROAMPHETAMINE SULFATE
     Dosage: UNK
     Dates: end: 202008
  14. ADDERALL [Concomitant]
     Active Substance: AMPHETAMINE ASPARTATE\AMPHETAMINE SULFATE\DEXTROAMPHETAMINE SACCHARATE\DEXTROAMPHETAMINE SULFATE
     Dosage: UNK
     Dates: end: 202008
  15. ADDERALL [Concomitant]
     Active Substance: AMPHETAMINE ASPARTATE\AMPHETAMINE SULFATE\DEXTROAMPHETAMINE SACCHARATE\DEXTROAMPHETAMINE SULFATE
     Dosage: UNK
     Dates: end: 202008
  16. ADDERALL [Concomitant]
     Active Substance: AMPHETAMINE ASPARTATE\AMPHETAMINE SULFATE\DEXTROAMPHETAMINE SACCHARATE\DEXTROAMPHETAMINE SULFATE
     Dosage: UNK
     Dates: end: 202008
  17. ADDERALL [Concomitant]
     Active Substance: AMPHETAMINE ASPARTATE\AMPHETAMINE SULFATE\DEXTROAMPHETAMINE SACCHARATE\DEXTROAMPHETAMINE SULFATE
     Dosage: UNK
     Dates: end: 202008
  18. ADDERALL [Concomitant]
     Active Substance: AMPHETAMINE ASPARTATE\AMPHETAMINE SULFATE\DEXTROAMPHETAMINE SACCHARATE\DEXTROAMPHETAMINE SULFATE
     Dosage: UNK
     Dates: end: 202008
  19. ADDERALL [Concomitant]
     Active Substance: AMPHETAMINE ASPARTATE\AMPHETAMINE SULFATE\DEXTROAMPHETAMINE SACCHARATE\DEXTROAMPHETAMINE SULFATE
     Dosage: UNK
     Dates: end: 202008
  20. ADDERALL [Concomitant]
     Active Substance: AMPHETAMINE ASPARTATE\AMPHETAMINE SULFATE\DEXTROAMPHETAMINE SACCHARATE\DEXTROAMPHETAMINE SULFATE
     Dosage: UNK
     Dates: end: 202008
  21. ADDERALL [Concomitant]
     Active Substance: AMPHETAMINE ASPARTATE\AMPHETAMINE SULFATE\DEXTROAMPHETAMINE SACCHARATE\DEXTROAMPHETAMINE SULFATE
     Dosage: UNK
     Dates: end: 202008
  22. ADDERALL [Concomitant]
     Active Substance: AMPHETAMINE ASPARTATE\AMPHETAMINE SULFATE\DEXTROAMPHETAMINE SACCHARATE\DEXTROAMPHETAMINE SULFATE
     Dosage: UNK
     Dates: end: 202008
  23. ADDERALL [Concomitant]
     Active Substance: AMPHETAMINE ASPARTATE\AMPHETAMINE SULFATE\DEXTROAMPHETAMINE SACCHARATE\DEXTROAMPHETAMINE SULFATE
     Dosage: UNK
     Dates: end: 202008
  24. ADDERALL [Concomitant]
     Active Substance: AMPHETAMINE ASPARTATE\AMPHETAMINE SULFATE\DEXTROAMPHETAMINE SACCHARATE\DEXTROAMPHETAMINE SULFATE
     Dosage: UNK
     Dates: end: 202008
  25. ADDERALL [Concomitant]
     Active Substance: AMPHETAMINE ASPARTATE\AMPHETAMINE SULFATE\DEXTROAMPHETAMINE SACCHARATE\DEXTROAMPHETAMINE SULFATE
     Dosage: UNK
     Dates: end: 202008
  26. ADDERALL [Concomitant]
     Active Substance: AMPHETAMINE ASPARTATE\AMPHETAMINE SULFATE\DEXTROAMPHETAMINE SACCHARATE\DEXTROAMPHETAMINE SULFATE
     Dosage: UNK
     Dates: end: 202008
  27. ADDERALL [Concomitant]
     Active Substance: AMPHETAMINE ASPARTATE\AMPHETAMINE SULFATE\DEXTROAMPHETAMINE SACCHARATE\DEXTROAMPHETAMINE SULFATE
     Dosage: UNK
     Dates: end: 202008
  28. ADDERALL [Concomitant]
     Active Substance: AMPHETAMINE ASPARTATE\AMPHETAMINE SULFATE\DEXTROAMPHETAMINE SACCHARATE\DEXTROAMPHETAMINE SULFATE
     Dosage: UNK
     Dates: end: 202008
  29. ADDERALL [Concomitant]
     Active Substance: AMPHETAMINE ASPARTATE\AMPHETAMINE SULFATE\DEXTROAMPHETAMINE SACCHARATE\DEXTROAMPHETAMINE SULFATE
     Dosage: UNK
     Dates: end: 202008
  30. ADDERALL [Concomitant]
     Active Substance: AMPHETAMINE ASPARTATE\AMPHETAMINE SULFATE\DEXTROAMPHETAMINE SACCHARATE\DEXTROAMPHETAMINE SULFATE
     Dosage: UNK
     Dates: end: 202008
  31. ADDERALL [Concomitant]
     Active Substance: AMPHETAMINE ASPARTATE\AMPHETAMINE SULFATE\DEXTROAMPHETAMINE SACCHARATE\DEXTROAMPHETAMINE SULFATE
     Dosage: UNK
     Dates: end: 202008
  32. ADDERALL [Concomitant]
     Active Substance: AMPHETAMINE ASPARTATE\AMPHETAMINE SULFATE\DEXTROAMPHETAMINE SACCHARATE\DEXTROAMPHETAMINE SULFATE
     Dosage: UNK
     Dates: end: 202008
  33. ADDERALL [Concomitant]
     Active Substance: AMPHETAMINE ASPARTATE\AMPHETAMINE SULFATE\DEXTROAMPHETAMINE SACCHARATE\DEXTROAMPHETAMINE SULFATE
     Dosage: UNK
     Dates: end: 202008
  34. ADDERALL [Concomitant]
     Active Substance: AMPHETAMINE ASPARTATE\AMPHETAMINE SULFATE\DEXTROAMPHETAMINE SACCHARATE\DEXTROAMPHETAMINE SULFATE
     Dosage: UNK
     Dates: end: 202008
  35. ADDERALL [Concomitant]
     Active Substance: AMPHETAMINE ASPARTATE\AMPHETAMINE SULFATE\DEXTROAMPHETAMINE SACCHARATE\DEXTROAMPHETAMINE SULFATE
     Dosage: UNK
     Dates: end: 202008
  36. ADDERALL [Concomitant]
     Active Substance: AMPHETAMINE ASPARTATE\AMPHETAMINE SULFATE\DEXTROAMPHETAMINE SACCHARATE\DEXTROAMPHETAMINE SULFATE
     Dosage: UNK
     Dates: end: 202008
  37. ADDERALL [Concomitant]
     Active Substance: AMPHETAMINE ASPARTATE\AMPHETAMINE SULFATE\DEXTROAMPHETAMINE SACCHARATE\DEXTROAMPHETAMINE SULFATE
     Dosage: UNK
     Dates: end: 202008
  38. ADDERALL [Concomitant]
     Active Substance: AMPHETAMINE ASPARTATE\AMPHETAMINE SULFATE\DEXTROAMPHETAMINE SACCHARATE\DEXTROAMPHETAMINE SULFATE
     Dosage: UNK
     Dates: end: 202008
  39. ALPRAZOLAM [Concomitant]
     Active Substance: ALPRAZOLAM
     Indication: Product used for unknown indication
     Dosage: 1 MG + 0.5 MG
     Dates: start: 20210803
  40. ALPRAZOLAM [Concomitant]
     Active Substance: ALPRAZOLAM
     Dosage: 0.5 MG
     Dates: start: 20220817
  41. BERBERINE [Concomitant]
     Active Substance: BERBERINE
     Indication: Product used for unknown indication
     Dosage: UNK
  42. BERBERINE [Concomitant]
     Active Substance: BERBERINE
  43. BERBERINE [Concomitant]
     Active Substance: BERBERINE
  44. BERBERINE [Concomitant]
     Active Substance: BERBERINE
  45. BERBERINE [Concomitant]
     Active Substance: BERBERINE
  46. BERBERINE [Concomitant]
     Active Substance: BERBERINE
  47. BERBERINE [Concomitant]
     Active Substance: BERBERINE
  48. BERBERINE [Concomitant]
     Active Substance: BERBERINE
  49. BERBERINE [Concomitant]
     Active Substance: BERBERINE
  50. BERBERINE [Concomitant]
     Active Substance: BERBERINE
  51. BERBERINE [Concomitant]
     Active Substance: BERBERINE
  52. BERBERINE [Concomitant]
     Active Substance: BERBERINE
  53. BERBERINE [Concomitant]
     Active Substance: BERBERINE
  54. BERBERINE [Concomitant]
     Active Substance: BERBERINE
  55. BERBERINE [Concomitant]
     Active Substance: BERBERINE
  56. BERBERINE [Concomitant]
     Active Substance: BERBERINE
  57. BERBERINE [Concomitant]
     Active Substance: BERBERINE
  58. BERBERINE [Concomitant]
     Active Substance: BERBERINE
  59. BERBERINE [Concomitant]
     Active Substance: BERBERINE
  60. BERBERINE [Concomitant]
     Active Substance: BERBERINE
  61. BERBERINE [Concomitant]
     Active Substance: BERBERINE
  62. BERBERINE [Concomitant]
     Active Substance: BERBERINE
  63. BERBERINE [Concomitant]
     Active Substance: BERBERINE
  64. BERBERINE [Concomitant]
     Active Substance: BERBERINE
  65. BERBERINE [Concomitant]
     Active Substance: BERBERINE
  66. BERBERINE [Concomitant]
     Active Substance: BERBERINE
  67. BERBERINE [Concomitant]
     Active Substance: BERBERINE
     Dosage: UNK
  68. BERBERINE [Concomitant]
     Active Substance: BERBERINE
     Dosage: UNK
  69. BERBERINE [Concomitant]
     Active Substance: BERBERINE
  70. BERBERINE [Concomitant]
     Active Substance: BERBERINE
     Dosage: UNK
  71. BERBERINE [Concomitant]
     Active Substance: BERBERINE
     Dosage: UNK
  72. CANNABIDIOL\HERBALS [Concomitant]
     Active Substance: CANNABIDIOL\HERBALS
     Indication: Product used for unknown indication
     Dosage: UNK
  73. CANNABIDIOL\HERBALS [Concomitant]
     Active Substance: CANNABIDIOL\HERBALS
  74. CANNABIDIOL\HERBALS [Concomitant]
     Active Substance: CANNABIDIOL\HERBALS
  75. CANNABIDIOL\HERBALS [Concomitant]
     Active Substance: CANNABIDIOL\HERBALS
  76. CANNABIDIOL\HERBALS [Concomitant]
     Active Substance: CANNABIDIOL\HERBALS
  77. CANNABIDIOL\HERBALS [Concomitant]
     Active Substance: CANNABIDIOL\HERBALS
  78. CANNABIDIOL\HERBALS [Concomitant]
     Active Substance: CANNABIDIOL\HERBALS
  79. CANNABIDIOL\HERBALS [Concomitant]
     Active Substance: CANNABIDIOL\HERBALS
  80. CANNABIDIOL\HERBALS [Concomitant]
     Active Substance: CANNABIDIOL\HERBALS
  81. CANNABIDIOL\HERBALS [Concomitant]
     Active Substance: CANNABIDIOL\HERBALS
  82. CANNABIDIOL\HERBALS [Concomitant]
     Active Substance: CANNABIDIOL\HERBALS
  83. CANNABIDIOL\HERBALS [Concomitant]
     Active Substance: CANNABIDIOL\HERBALS
  84. CANNABIDIOL\HERBALS [Concomitant]
     Active Substance: CANNABIDIOL\HERBALS
  85. CANNABIDIOL\HERBALS [Concomitant]
     Active Substance: CANNABIDIOL\HERBALS
  86. CANNABIDIOL\HERBALS [Concomitant]
     Active Substance: CANNABIDIOL\HERBALS
  87. CANNABIDIOL\HERBALS [Concomitant]
     Active Substance: CANNABIDIOL\HERBALS
  88. CANNABIDIOL\HERBALS [Concomitant]
     Active Substance: CANNABIDIOL\HERBALS
  89. CANNABIDIOL\HERBALS [Concomitant]
     Active Substance: CANNABIDIOL\HERBALS
  90. CANNABIDIOL\HERBALS [Concomitant]
     Active Substance: CANNABIDIOL\HERBALS
  91. CANNABIDIOL\HERBALS [Concomitant]
     Active Substance: CANNABIDIOL\HERBALS
  92. CANNABIDIOL\HERBALS [Concomitant]
     Active Substance: CANNABIDIOL\HERBALS
  93. CANNABIDIOL\HERBALS [Concomitant]
     Active Substance: CANNABIDIOL\HERBALS
  94. CANNABIDIOL\HERBALS [Concomitant]
     Active Substance: CANNABIDIOL\HERBALS
  95. CANNABIDIOL\HERBALS [Concomitant]
     Active Substance: CANNABIDIOL\HERBALS
  96. CANNABIDIOL\HERBALS [Concomitant]
     Active Substance: CANNABIDIOL\HERBALS
  97. CANNABIDIOL\HERBALS [Concomitant]
     Active Substance: CANNABIDIOL\HERBALS
  98. CANNABIDIOL\HERBALS [Concomitant]
     Active Substance: CANNABIDIOL\HERBALS
  99. CANNABIDIOL\HERBALS [Concomitant]
     Active Substance: CANNABIDIOL\HERBALS
  100. CANNABIDIOL\HERBALS [Concomitant]
     Active Substance: CANNABIDIOL\HERBALS
  101. CANNABIDIOL\HERBALS [Concomitant]
     Active Substance: CANNABIDIOL\HERBALS
  102. CANNABIDIOL\HERBALS [Concomitant]
     Active Substance: CANNABIDIOL\HERBALS
  103. CHLORPHENIRAMINE [Concomitant]
     Active Substance: CHLORPHENIRAMINE
     Indication: Product used for unknown indication
     Dosage: UNK
     Dates: end: 202008
  104. CHLORPHENIRAMINE [Concomitant]
     Active Substance: CHLORPHENIRAMINE
     Dosage: UNK
     Dates: end: 202008
  105. CHLORPHENIRAMINE [Concomitant]
     Active Substance: CHLORPHENIRAMINE
     Dosage: UNK
     Dates: end: 202008
  106. CHLORPHENIRAMINE [Concomitant]
     Active Substance: CHLORPHENIRAMINE
     Dosage: UNK
     Dates: end: 202008
  107. CHLORPHENIRAMINE [Concomitant]
     Active Substance: CHLORPHENIRAMINE
     Dosage: UNK
     Dates: end: 202008
  108. CHLORPHENIRAMINE [Concomitant]
     Active Substance: CHLORPHENIRAMINE
     Dosage: UNK
     Dates: end: 202008
  109. CHLORPHENIRAMINE [Concomitant]
     Active Substance: CHLORPHENIRAMINE
     Dosage: UNK
     Dates: end: 202008
  110. CHLORPHENIRAMINE [Concomitant]
     Active Substance: CHLORPHENIRAMINE
     Dosage: UNK
     Dates: end: 202008
  111. CHLORPHENIRAMINE [Concomitant]
     Active Substance: CHLORPHENIRAMINE
     Dosage: UNK
     Dates: end: 202008
  112. CHLORPHENIRAMINE [Concomitant]
     Active Substance: CHLORPHENIRAMINE
     Dosage: UNK
     Dates: end: 202008
  113. CHLORPHENIRAMINE [Concomitant]
     Active Substance: CHLORPHENIRAMINE
     Dosage: UNK
     Dates: end: 202008
  114. CHLORPHENIRAMINE [Concomitant]
     Active Substance: CHLORPHENIRAMINE
     Dosage: UNK
     Dates: end: 202008
  115. CHLORPHENIRAMINE [Concomitant]
     Active Substance: CHLORPHENIRAMINE
     Dosage: UNK
     Dates: end: 202008
  116. CHLORPHENIRAMINE [Concomitant]
     Active Substance: CHLORPHENIRAMINE
     Dosage: UNK
     Dates: end: 202008
  117. CHLORPHENIRAMINE [Concomitant]
     Active Substance: CHLORPHENIRAMINE
     Dosage: UNK
     Dates: end: 202008
  118. CHLORPHENIRAMINE [Concomitant]
     Active Substance: CHLORPHENIRAMINE
     Dosage: UNK
     Dates: end: 202008
  119. CHLORPHENIRAMINE [Concomitant]
     Active Substance: CHLORPHENIRAMINE
     Dosage: UNK
     Dates: end: 202008
  120. CHLORPHENIRAMINE [Concomitant]
     Active Substance: CHLORPHENIRAMINE
     Dosage: UNK
     Dates: end: 202008
  121. CHLORPHENIRAMINE [Concomitant]
     Active Substance: CHLORPHENIRAMINE
     Dosage: UNK
     Dates: end: 202008
  122. CHLORPHENIRAMINE [Concomitant]
     Active Substance: CHLORPHENIRAMINE
     Dosage: UNK
     Dates: end: 202008
  123. CHLORPHENIRAMINE [Concomitant]
     Active Substance: CHLORPHENIRAMINE
     Dosage: UNK
     Dates: end: 202008
  124. CHLORPHENIRAMINE [Concomitant]
     Active Substance: CHLORPHENIRAMINE
     Dosage: UNK
     Dates: end: 202008
  125. CHLORPHENIRAMINE [Concomitant]
     Active Substance: CHLORPHENIRAMINE
     Dosage: UNK
     Dates: end: 202008
  126. CHLORPHENIRAMINE [Concomitant]
     Active Substance: CHLORPHENIRAMINE
     Dosage: UNK
     Dates: end: 202008
  127. CHLORPHENIRAMINE [Concomitant]
     Active Substance: CHLORPHENIRAMINE
     Dosage: UNK
     Dates: end: 202008
  128. CHLORPHENIRAMINE [Concomitant]
     Active Substance: CHLORPHENIRAMINE
     Dosage: UNK
     Dates: end: 202008
  129. CHLORPHENIRAMINE [Concomitant]
     Active Substance: CHLORPHENIRAMINE
     Dosage: UNK
     Dates: end: 202008
  130. CHLORPHENIRAMINE [Concomitant]
     Active Substance: CHLORPHENIRAMINE
     Dosage: UNK
     Dates: end: 202008
  131. CHLORPHENIRAMINE [Concomitant]
     Active Substance: CHLORPHENIRAMINE
     Dosage: UNK
     Dates: end: 202008
  132. CHLORPHENIRAMINE [Concomitant]
     Active Substance: CHLORPHENIRAMINE
     Dosage: UNK
     Dates: end: 202008
  133. CHLORPHENIRAMINE [Concomitant]
     Active Substance: CHLORPHENIRAMINE
     Dosage: UNK
     Dates: end: 202008
  134. CLOMIPRAMINE [Concomitant]
     Active Substance: CLOMIPRAMINE
     Indication: Product used for unknown indication
     Dosage: 25 MG
     Dates: end: 202008
  135. CLOMIPRAMINE [Concomitant]
     Active Substance: CLOMIPRAMINE
     Dosage: 50 MG
     Dates: end: 202008
  136. CLOMIPRAMINE [Concomitant]
     Active Substance: CLOMIPRAMINE
     Dosage: 25 MG
     Dates: end: 202008
  137. CLOMIPRAMINE [Concomitant]
     Active Substance: CLOMIPRAMINE
     Dosage: 50 MG
     Dates: end: 202008
  138. CLOMIPRAMINE [Concomitant]
     Active Substance: CLOMIPRAMINE
     Dosage: 25 MG
     Dates: end: 202008
  139. CLOMIPRAMINE [Concomitant]
     Active Substance: CLOMIPRAMINE
     Dosage: 50 MG
     Dates: end: 202008
  140. CLOMIPRAMINE [Concomitant]
     Active Substance: CLOMIPRAMINE
     Dosage: 25 MG
     Dates: end: 202008
  141. CLOMIPRAMINE [Concomitant]
     Active Substance: CLOMIPRAMINE
     Dosage: 50 MG
     Dates: end: 202008
  142. CLOMIPRAMINE [Concomitant]
     Active Substance: CLOMIPRAMINE
     Dosage: 25 MG
     Dates: end: 202008
  143. CLOMIPRAMINE [Concomitant]
     Active Substance: CLOMIPRAMINE
     Dosage: 50 MG
     Dates: end: 202008
  144. CLOMIPRAMINE [Concomitant]
     Active Substance: CLOMIPRAMINE
     Dosage: 25 MG
     Dates: end: 202008
  145. CLOMIPRAMINE [Concomitant]
     Active Substance: CLOMIPRAMINE
     Dosage: 50 MG
     Dates: end: 202008
  146. CLOMIPRAMINE [Concomitant]
     Active Substance: CLOMIPRAMINE
     Dosage: 25 MG
     Dates: end: 202008
  147. CLOMIPRAMINE [Concomitant]
     Active Substance: CLOMIPRAMINE
     Dosage: 50 MG
     Dates: end: 202008
  148. CLOMIPRAMINE [Concomitant]
     Active Substance: CLOMIPRAMINE
     Dosage: 25 MG
     Dates: end: 202008
  149. CLOMIPRAMINE [Concomitant]
     Active Substance: CLOMIPRAMINE
     Dosage: 50 MG
     Dates: end: 202008
  150. CLOMIPRAMINE [Concomitant]
     Active Substance: CLOMIPRAMINE
     Dosage: 25 MG
     Dates: end: 202008
  151. CLOMIPRAMINE [Concomitant]
     Active Substance: CLOMIPRAMINE
     Dosage: 50 MG
     Dates: end: 202008
  152. CLOMIPRAMINE [Concomitant]
     Active Substance: CLOMIPRAMINE
     Dosage: 25 MG
     Dates: end: 202008
  153. CLOMIPRAMINE [Concomitant]
     Active Substance: CLOMIPRAMINE
     Dosage: 50 MG
     Dates: end: 202008
  154. CLOMIPRAMINE [Concomitant]
     Active Substance: CLOMIPRAMINE
     Dosage: 25 MG
     Dates: end: 202008
  155. CLOMIPRAMINE [Concomitant]
     Active Substance: CLOMIPRAMINE
     Dosage: 50 MG
     Dates: end: 202008
  156. CLOMIPRAMINE [Concomitant]
     Active Substance: CLOMIPRAMINE
     Dosage: 25 MG
     Dates: end: 202008
  157. CLOMIPRAMINE [Concomitant]
     Active Substance: CLOMIPRAMINE
     Dosage: 50 MG
     Dates: end: 202008
  158. CLOMIPRAMINE [Concomitant]
     Active Substance: CLOMIPRAMINE
     Dosage: 25 MG
     Dates: end: 202008
  159. CLOMIPRAMINE [Concomitant]
     Active Substance: CLOMIPRAMINE
     Dosage: 50 MG
     Dates: end: 202008
  160. CLOMIPRAMINE [Concomitant]
     Active Substance: CLOMIPRAMINE
     Dosage: 25 MG
     Dates: end: 202008
  161. CLOMIPRAMINE [Concomitant]
     Active Substance: CLOMIPRAMINE
     Dosage: 50 MG
     Dates: end: 202008
  162. CLOMIPRAMINE [Concomitant]
     Active Substance: CLOMIPRAMINE
     Dosage: 25 MG
     Dates: end: 202008
  163. CLOMIPRAMINE [Concomitant]
     Active Substance: CLOMIPRAMINE
     Dosage: 50 MG
     Dates: end: 202008
  164. CLOMIPRAMINE [Concomitant]
     Active Substance: CLOMIPRAMINE
     Dosage: 25 MG
     Dates: end: 202008
  165. CLOMIPRAMINE [Concomitant]
     Active Substance: CLOMIPRAMINE
     Dosage: 50 MG
     Dates: end: 202008
  166. CLOMIPRAMINE [Concomitant]
     Active Substance: CLOMIPRAMINE
     Dosage: 25 MG
     Dates: end: 202008
  167. CLOMIPRAMINE [Concomitant]
     Active Substance: CLOMIPRAMINE
     Dosage: 50 MG
     Dates: end: 202008
  168. CLOMIPRAMINE [Concomitant]
     Active Substance: CLOMIPRAMINE
     Dosage: 25 MG
     Dates: end: 202008
  169. CLOMIPRAMINE [Concomitant]
     Active Substance: CLOMIPRAMINE
     Dosage: 50 MG
     Dates: end: 202008
  170. CLOMIPRAMINE [Concomitant]
     Active Substance: CLOMIPRAMINE
     Dosage: 25 MG
     Dates: end: 202008
  171. CLOMIPRAMINE [Concomitant]
     Active Substance: CLOMIPRAMINE
     Dosage: 50 MG
     Dates: end: 202008
  172. CLOMIPRAMINE [Concomitant]
     Active Substance: CLOMIPRAMINE
     Dosage: 25 MG
     Dates: end: 202008
  173. CLOMIPRAMINE [Concomitant]
     Active Substance: CLOMIPRAMINE
     Dosage: 50 MG
     Dates: end: 202008
  174. CLOMIPRAMINE [Concomitant]
     Active Substance: CLOMIPRAMINE
     Dosage: 25 MG
     Dates: end: 202008
  175. CLOMIPRAMINE [Concomitant]
     Active Substance: CLOMIPRAMINE
     Dosage: 50 MG
     Dates: end: 202008
  176. CLOMIPRAMINE [Concomitant]
     Active Substance: CLOMIPRAMINE
     Dosage: 25 MG
     Dates: end: 202008
  177. CLOMIPRAMINE [Concomitant]
     Active Substance: CLOMIPRAMINE
     Dosage: 50 MG
     Dates: end: 202008
  178. CLOMIPRAMINE [Concomitant]
     Active Substance: CLOMIPRAMINE
     Dosage: 25 MG
     Dates: end: 202008
  179. CLOMIPRAMINE [Concomitant]
     Active Substance: CLOMIPRAMINE
     Dosage: 50 MG
     Dates: end: 202008
  180. CLOMIPRAMINE [Concomitant]
     Active Substance: CLOMIPRAMINE
     Dosage: 25 MG
     Dates: end: 202008
  181. CLOMIPRAMINE [Concomitant]
     Active Substance: CLOMIPRAMINE
     Dosage: 50 MG
     Dates: end: 202008
  182. CLOMIPRAMINE [Concomitant]
     Active Substance: CLOMIPRAMINE
     Dosage: 25 MG
     Dates: end: 202008
  183. CLOMIPRAMINE [Concomitant]
     Active Substance: CLOMIPRAMINE
     Dosage: 50 MG
     Dates: end: 202008
  184. CLOMIPRAMINE [Concomitant]
     Active Substance: CLOMIPRAMINE
     Dosage: 25 MG
     Dates: end: 202008
  185. CLOMIPRAMINE [Concomitant]
     Active Substance: CLOMIPRAMINE
     Dosage: 50 MG
     Dates: end: 202008
  186. CLOMIPRAMINE [Concomitant]
     Active Substance: CLOMIPRAMINE
     Dosage: 25 MG
     Dates: end: 202008
  187. CLOMIPRAMINE [Concomitant]
     Active Substance: CLOMIPRAMINE
     Dosage: 50 MG
     Dates: end: 202008
  188. CLOMIPRAMINE [Concomitant]
     Active Substance: CLOMIPRAMINE
     Dosage: 25 MG
     Dates: end: 202008
  189. CLOMIPRAMINE [Concomitant]
     Active Substance: CLOMIPRAMINE
     Dosage: 50 MG
     Dates: end: 202008
  190. CLOMIPRAMINE [Concomitant]
     Active Substance: CLOMIPRAMINE
     Dosage: 25 MG
     Dates: end: 202008
  191. CLOMIPRAMINE [Concomitant]
     Active Substance: CLOMIPRAMINE
     Dosage: 50 MG
     Dates: end: 202008
  192. CLOMIPRAMINE [Concomitant]
     Active Substance: CLOMIPRAMINE
     Dosage: 25 MG
     Dates: end: 202008
  193. CLOMIPRAMINE [Concomitant]
     Active Substance: CLOMIPRAMINE
     Dosage: 50 MG
     Dates: end: 202008
  194. CLOMIPRAMINE [Concomitant]
     Active Substance: CLOMIPRAMINE
     Dosage: 25 MG
     Dates: end: 202008
  195. CLOMIPRAMINE [Concomitant]
     Active Substance: CLOMIPRAMINE
     Dosage: 50 MG
     Dates: end: 202008
  196. DICYCLOMINE [Concomitant]
     Active Substance: DICYCLOMINE HYDROCHLORIDE
     Indication: Product used for unknown indication
     Dosage: UNK
  197. DICYCLOMINE [Concomitant]
     Active Substance: DICYCLOMINE HYDROCHLORIDE
  198. DICYCLOMINE [Concomitant]
     Active Substance: DICYCLOMINE HYDROCHLORIDE
  199. DICYCLOMINE [Concomitant]
     Active Substance: DICYCLOMINE HYDROCHLORIDE
  200. DICYCLOMINE [Concomitant]
     Active Substance: DICYCLOMINE HYDROCHLORIDE
  201. DICYCLOMINE [Concomitant]
     Active Substance: DICYCLOMINE HYDROCHLORIDE
  202. DICYCLOMINE [Concomitant]
     Active Substance: DICYCLOMINE HYDROCHLORIDE
  203. DICYCLOMINE [Concomitant]
     Active Substance: DICYCLOMINE HYDROCHLORIDE
  204. DICYCLOMINE [Concomitant]
     Active Substance: DICYCLOMINE HYDROCHLORIDE
  205. DICYCLOMINE [Concomitant]
     Active Substance: DICYCLOMINE HYDROCHLORIDE
  206. DICYCLOMINE [Concomitant]
     Active Substance: DICYCLOMINE HYDROCHLORIDE
  207. DICYCLOMINE [Concomitant]
     Active Substance: DICYCLOMINE HYDROCHLORIDE
  208. DICYCLOMINE [Concomitant]
     Active Substance: DICYCLOMINE HYDROCHLORIDE
  209. DICYCLOMINE [Concomitant]
     Active Substance: DICYCLOMINE HYDROCHLORIDE
  210. DICYCLOMINE [Concomitant]
     Active Substance: DICYCLOMINE HYDROCHLORIDE
  211. DICYCLOMINE [Concomitant]
     Active Substance: DICYCLOMINE HYDROCHLORIDE
  212. DICYCLOMINE [Concomitant]
     Active Substance: DICYCLOMINE HYDROCHLORIDE
  213. DICYCLOMINE [Concomitant]
     Active Substance: DICYCLOMINE HYDROCHLORIDE
  214. DICYCLOMINE [Concomitant]
     Active Substance: DICYCLOMINE HYDROCHLORIDE
  215. DICYCLOMINE [Concomitant]
     Active Substance: DICYCLOMINE HYDROCHLORIDE
  216. DICYCLOMINE [Concomitant]
     Active Substance: DICYCLOMINE HYDROCHLORIDE
  217. DICYCLOMINE [Concomitant]
     Active Substance: DICYCLOMINE HYDROCHLORIDE
  218. DICYCLOMINE [Concomitant]
     Active Substance: DICYCLOMINE HYDROCHLORIDE
  219. DICYCLOMINE [Concomitant]
     Active Substance: DICYCLOMINE HYDROCHLORIDE
  220. DICYCLOMINE [Concomitant]
     Active Substance: DICYCLOMINE HYDROCHLORIDE
  221. DICYCLOMINE [Concomitant]
     Active Substance: DICYCLOMINE HYDROCHLORIDE
  222. DICYCLOMINE [Concomitant]
     Active Substance: DICYCLOMINE HYDROCHLORIDE
  223. DICYCLOMINE [Concomitant]
     Active Substance: DICYCLOMINE HYDROCHLORIDE
  224. DICYCLOMINE [Concomitant]
     Active Substance: DICYCLOMINE HYDROCHLORIDE
  225. DICYCLOMINE [Concomitant]
     Active Substance: DICYCLOMINE HYDROCHLORIDE
  226. DICYCLOMINE [Concomitant]
     Active Substance: DICYCLOMINE HYDROCHLORIDE
  227. FENNEL [FOENICULUM VULGARE SEED] [Concomitant]
     Indication: Product used for unknown indication
     Dosage: UNK
  228. FENNEL [FOENICULUM VULGARE SEED] [Concomitant]
  229. FENNEL [FOENICULUM VULGARE SEED] [Concomitant]
  230. FENNEL [FOENICULUM VULGARE SEED] [Concomitant]
  231. FENNEL [FOENICULUM VULGARE SEED] [Concomitant]
  232. FENNEL [FOENICULUM VULGARE SEED] [Concomitant]
  233. FENNEL [FOENICULUM VULGARE SEED] [Concomitant]
  234. FENNEL [FOENICULUM VULGARE SEED] [Concomitant]
  235. FENNEL [FOENICULUM VULGARE SEED] [Concomitant]
  236. FENNEL [FOENICULUM VULGARE SEED] [Concomitant]
  237. FENNEL [FOENICULUM VULGARE SEED] [Concomitant]
  238. FENNEL [FOENICULUM VULGARE SEED] [Concomitant]
  239. FENNEL [FOENICULUM VULGARE SEED] [Concomitant]
  240. FENNEL [FOENICULUM VULGARE SEED] [Concomitant]
  241. FENNEL [FOENICULUM VULGARE SEED] [Concomitant]
  242. FENNEL [FOENICULUM VULGARE SEED] [Concomitant]
  243. FENNEL [FOENICULUM VULGARE SEED] [Concomitant]
  244. FENNEL [FOENICULUM VULGARE SEED] [Concomitant]
  245. FENNEL [FOENICULUM VULGARE SEED] [Concomitant]
  246. FENNEL [FOENICULUM VULGARE SEED] [Concomitant]
  247. FENNEL [FOENICULUM VULGARE SEED] [Concomitant]
  248. FENNEL [FOENICULUM VULGARE SEED] [Concomitant]
  249. FENNEL [FOENICULUM VULGARE SEED] [Concomitant]
  250. FENNEL [FOENICULUM VULGARE SEED] [Concomitant]
  251. FENNEL [FOENICULUM VULGARE SEED] [Concomitant]
  252. FENNEL [FOENICULUM VULGARE SEED] [Concomitant]
  253. FENNEL [FOENICULUM VULGARE SEED] [Concomitant]
  254. FENNEL [FOENICULUM VULGARE SEED] [Concomitant]
  255. FENNEL [FOENICULUM VULGARE SEED] [Concomitant]
  256. FENNEL [FOENICULUM VULGARE SEED] [Concomitant]
  257. FENNEL [FOENICULUM VULGARE SEED] [Concomitant]
  258. FLORASTOR [SACCHAROMYCES BOULARDII] [Concomitant]
     Indication: Product used for unknown indication
     Dosage: UNK
  259. FLORASTOR [SACCHAROMYCES BOULARDII] [Concomitant]
  260. FLORASTOR [SACCHAROMYCES BOULARDII] [Concomitant]
  261. FLORASTOR [SACCHAROMYCES BOULARDII] [Concomitant]
  262. FLORASTOR [SACCHAROMYCES BOULARDII] [Concomitant]
  263. FLORASTOR [SACCHAROMYCES BOULARDII] [Concomitant]
  264. FLORASTOR [SACCHAROMYCES BOULARDII] [Concomitant]
  265. FLORASTOR [SACCHAROMYCES BOULARDII] [Concomitant]
  266. FLORASTOR [SACCHAROMYCES BOULARDII] [Concomitant]
  267. FLORASTOR [SACCHAROMYCES BOULARDII] [Concomitant]
  268. FLORASTOR [SACCHAROMYCES BOULARDII] [Concomitant]
  269. FLORASTOR [SACCHAROMYCES BOULARDII] [Concomitant]
  270. FLORASTOR [SACCHAROMYCES BOULARDII] [Concomitant]
  271. FLORASTOR [SACCHAROMYCES BOULARDII] [Concomitant]
  272. FLORASTOR [SACCHAROMYCES BOULARDII] [Concomitant]
  273. FLORASTOR [SACCHAROMYCES BOULARDII] [Concomitant]
  274. FLORASTOR [SACCHAROMYCES BOULARDII] [Concomitant]
  275. FLORASTOR [SACCHAROMYCES BOULARDII] [Concomitant]
  276. FLORASTOR [SACCHAROMYCES BOULARDII] [Concomitant]
  277. FLORASTOR [SACCHAROMYCES BOULARDII] [Concomitant]
  278. FLORASTOR [SACCHAROMYCES BOULARDII] [Concomitant]
  279. FLORASTOR [SACCHAROMYCES BOULARDII] [Concomitant]
  280. FLORASTOR [SACCHAROMYCES BOULARDII] [Concomitant]
  281. FLORASTOR [SACCHAROMYCES BOULARDII] [Concomitant]
  282. FLORASTOR [SACCHAROMYCES BOULARDII] [Concomitant]
  283. FLORASTOR [SACCHAROMYCES BOULARDII] [Concomitant]
  284. FLORASTOR [SACCHAROMYCES BOULARDII] [Concomitant]
  285. FLORASTOR [SACCHAROMYCES BOULARDII] [Concomitant]
  286. FLORASTOR [SACCHAROMYCES BOULARDII] [Concomitant]
  287. FLORASTOR [SACCHAROMYCES BOULARDII] [Concomitant]
  288. FLORASTOR [SACCHAROMYCES BOULARDII] [Concomitant]
  289. KLONOPIN [Concomitant]
     Active Substance: CLONAZEPAM
     Indication: Product used for unknown indication
     Dosage: UNK
     Dates: end: 201810
  290. KLONOPIN [Concomitant]
     Active Substance: CLONAZEPAM
     Dosage: UNK
     Dates: end: 201810
  291. KLONOPIN [Concomitant]
     Active Substance: CLONAZEPAM
     Dosage: UNK
     Dates: end: 201810
  292. KLONOPIN [Concomitant]
     Active Substance: CLONAZEPAM
     Dosage: UNK
     Dates: end: 201810
  293. KLONOPIN [Concomitant]
     Active Substance: CLONAZEPAM
     Dosage: UNK
     Dates: end: 201810
  294. KLONOPIN [Concomitant]
     Active Substance: CLONAZEPAM
     Dosage: UNK
     Dates: end: 201810
  295. KLONOPIN [Concomitant]
     Active Substance: CLONAZEPAM
     Dosage: UNK
     Dates: end: 201810
  296. KLONOPIN [Concomitant]
     Active Substance: CLONAZEPAM
     Dosage: UNK
     Dates: end: 201810
  297. KLONOPIN [Concomitant]
     Active Substance: CLONAZEPAM
     Dosage: UNK
     Dates: end: 201810
  298. KLONOPIN [Concomitant]
     Active Substance: CLONAZEPAM
     Dosage: UNK
     Dates: end: 201810
  299. KLONOPIN [Concomitant]
     Active Substance: CLONAZEPAM
     Dosage: UNK
     Dates: end: 201810
  300. KLONOPIN [Concomitant]
     Active Substance: CLONAZEPAM
     Dosage: UNK
     Dates: end: 201810
  301. KLONOPIN [Concomitant]
     Active Substance: CLONAZEPAM
     Dosage: UNK
     Dates: end: 201810
  302. KLONOPIN [Concomitant]
     Active Substance: CLONAZEPAM
     Dosage: UNK
     Dates: end: 201810
  303. KLONOPIN [Concomitant]
     Active Substance: CLONAZEPAM
     Dosage: UNK
     Dates: end: 201810
  304. KLONOPIN [Concomitant]
     Active Substance: CLONAZEPAM
     Dosage: UNK
     Dates: end: 201810
  305. KLONOPIN [Concomitant]
     Active Substance: CLONAZEPAM
     Dosage: UNK
     Dates: end: 201810
  306. KLONOPIN [Concomitant]
     Active Substance: CLONAZEPAM
     Dosage: UNK
     Dates: end: 201810
  307. KLONOPIN [Concomitant]
     Active Substance: CLONAZEPAM
     Dosage: UNK
     Dates: end: 201810
  308. KLONOPIN [Concomitant]
     Active Substance: CLONAZEPAM
     Dosage: UNK
     Dates: end: 201810
  309. KLONOPIN [Concomitant]
     Active Substance: CLONAZEPAM
     Dosage: UNK
     Dates: end: 201810
  310. KLONOPIN [Concomitant]
     Active Substance: CLONAZEPAM
     Dosage: UNK
     Dates: end: 201810
  311. KLONOPIN [Concomitant]
     Active Substance: CLONAZEPAM
     Dosage: UNK
     Dates: end: 201810
  312. KLONOPIN [Concomitant]
     Active Substance: CLONAZEPAM
     Dosage: UNK
     Dates: end: 201810
  313. KLONOPIN [Concomitant]
     Active Substance: CLONAZEPAM
     Dosage: UNK
     Dates: end: 201810
  314. KLONOPIN [Concomitant]
     Active Substance: CLONAZEPAM
     Dosage: UNK
     Dates: end: 201810
  315. KLONOPIN [Concomitant]
     Active Substance: CLONAZEPAM
     Dosage: UNK
     Dates: end: 201810
  316. KLONOPIN [Concomitant]
     Active Substance: CLONAZEPAM
     Dosage: UNK
     Dates: end: 201810
  317. KLONOPIN [Concomitant]
     Active Substance: CLONAZEPAM
     Dosage: UNK
     Dates: end: 201810
  318. KLONOPIN [Concomitant]
     Active Substance: CLONAZEPAM
     Dosage: UNK
     Dates: end: 201810
  319. KLONOPIN [Concomitant]
     Active Substance: CLONAZEPAM
     Dosage: UNK
     Dates: end: 201810
  320. KYLEENA [Concomitant]
     Active Substance: LEVONORGESTREL
     Indication: Product used for unknown indication
     Dosage: UNK
  321. KYLEENA [Concomitant]
     Active Substance: LEVONORGESTREL
  322. KYLEENA [Concomitant]
     Active Substance: LEVONORGESTREL
  323. KYLEENA [Concomitant]
     Active Substance: LEVONORGESTREL
  324. KYLEENA [Concomitant]
     Active Substance: LEVONORGESTREL
  325. KYLEENA [Concomitant]
     Active Substance: LEVONORGESTREL
  326. KYLEENA [Concomitant]
     Active Substance: LEVONORGESTREL
  327. KYLEENA [Concomitant]
     Active Substance: LEVONORGESTREL
  328. KYLEENA [Concomitant]
     Active Substance: LEVONORGESTREL
  329. KYLEENA [Concomitant]
     Active Substance: LEVONORGESTREL
  330. KYLEENA [Concomitant]
     Active Substance: LEVONORGESTREL
  331. KYLEENA [Concomitant]
     Active Substance: LEVONORGESTREL
  332. KYLEENA [Concomitant]
     Active Substance: LEVONORGESTREL
  333. KYLEENA [Concomitant]
     Active Substance: LEVONORGESTREL
  334. KYLEENA [Concomitant]
     Active Substance: LEVONORGESTREL
  335. KYLEENA [Concomitant]
     Active Substance: LEVONORGESTREL
  336. KYLEENA [Concomitant]
     Active Substance: LEVONORGESTREL
  337. KYLEENA [Concomitant]
     Active Substance: LEVONORGESTREL
  338. KYLEENA [Concomitant]
     Active Substance: LEVONORGESTREL
  339. KYLEENA [Concomitant]
     Active Substance: LEVONORGESTREL
  340. KYLEENA [Concomitant]
     Active Substance: LEVONORGESTREL
  341. KYLEENA [Concomitant]
     Active Substance: LEVONORGESTREL
  342. KYLEENA [Concomitant]
     Active Substance: LEVONORGESTREL
  343. KYLEENA [Concomitant]
     Active Substance: LEVONORGESTREL
  344. KYLEENA [Concomitant]
     Active Substance: LEVONORGESTREL
  345. KYLEENA [Concomitant]
     Active Substance: LEVONORGESTREL
  346. KYLEENA [Concomitant]
     Active Substance: LEVONORGESTREL
  347. KYLEENA [Concomitant]
     Active Substance: LEVONORGESTREL
  348. KYLEENA [Concomitant]
     Active Substance: LEVONORGESTREL
  349. KYLEENA [Concomitant]
     Active Substance: LEVONORGESTREL
  350. KYLEENA [Concomitant]
     Active Substance: LEVONORGESTREL
  351. LO LOESTRIN FE [Concomitant]
     Active Substance: ETHINYL ESTRADIOL\NORETHINDRONE ACETATE
     Indication: Product used for unknown indication
     Dosage: UNK
     Dates: end: 202008
  352. LO LOESTRIN FE [Concomitant]
     Active Substance: ETHINYL ESTRADIOL\NORETHINDRONE ACETATE
     Dosage: UNK
     Dates: end: 202008
  353. LO LOESTRIN FE [Concomitant]
     Active Substance: ETHINYL ESTRADIOL\NORETHINDRONE ACETATE
     Dosage: UNK
     Dates: end: 202008
  354. LO LOESTRIN FE [Concomitant]
     Active Substance: ETHINYL ESTRADIOL\NORETHINDRONE ACETATE
     Dosage: UNK
     Dates: end: 202008
  355. LO LOESTRIN FE [Concomitant]
     Active Substance: ETHINYL ESTRADIOL\NORETHINDRONE ACETATE
     Dosage: UNK
     Dates: end: 202008
  356. LO LOESTRIN FE [Concomitant]
     Active Substance: ETHINYL ESTRADIOL\NORETHINDRONE ACETATE
     Dosage: UNK
     Dates: end: 202008
  357. LO LOESTRIN FE [Concomitant]
     Active Substance: ETHINYL ESTRADIOL\NORETHINDRONE ACETATE
     Dosage: UNK
     Dates: end: 202008
  358. LO LOESTRIN FE [Concomitant]
     Active Substance: ETHINYL ESTRADIOL\NORETHINDRONE ACETATE
     Dosage: UNK
     Dates: end: 202008
  359. LO LOESTRIN FE [Concomitant]
     Active Substance: ETHINYL ESTRADIOL\NORETHINDRONE ACETATE
     Dosage: UNK
     Dates: end: 202008
  360. LO LOESTRIN FE [Concomitant]
     Active Substance: ETHINYL ESTRADIOL\NORETHINDRONE ACETATE
     Dosage: UNK
     Dates: end: 202008
  361. LO LOESTRIN FE [Concomitant]
     Active Substance: ETHINYL ESTRADIOL\NORETHINDRONE ACETATE
     Dosage: UNK
     Dates: end: 202008
  362. LO LOESTRIN FE [Concomitant]
     Active Substance: ETHINYL ESTRADIOL\NORETHINDRONE ACETATE
     Dosage: UNK
     Dates: end: 202008
  363. LO LOESTRIN FE [Concomitant]
     Active Substance: ETHINYL ESTRADIOL\NORETHINDRONE ACETATE
     Dosage: UNK
     Dates: end: 202008
  364. LO LOESTRIN FE [Concomitant]
     Active Substance: ETHINYL ESTRADIOL\NORETHINDRONE ACETATE
     Dosage: UNK
     Dates: end: 202008
  365. LO LOESTRIN FE [Concomitant]
     Active Substance: ETHINYL ESTRADIOL\NORETHINDRONE ACETATE
     Dosage: UNK
     Dates: end: 202008
  366. LO LOESTRIN FE [Concomitant]
     Active Substance: ETHINYL ESTRADIOL\NORETHINDRONE ACETATE
     Dosage: UNK
     Dates: end: 202008
  367. LO LOESTRIN FE [Concomitant]
     Active Substance: ETHINYL ESTRADIOL\NORETHINDRONE ACETATE
     Dosage: UNK
     Dates: end: 202008
  368. LO LOESTRIN FE [Concomitant]
     Active Substance: ETHINYL ESTRADIOL\NORETHINDRONE ACETATE
     Dosage: UNK
     Dates: end: 202008
  369. LO LOESTRIN FE [Concomitant]
     Active Substance: ETHINYL ESTRADIOL\NORETHINDRONE ACETATE
     Dosage: UNK
     Dates: end: 202008
  370. LO LOESTRIN FE [Concomitant]
     Active Substance: ETHINYL ESTRADIOL\NORETHINDRONE ACETATE
     Dosage: UNK
     Dates: end: 202008
  371. LO LOESTRIN FE [Concomitant]
     Active Substance: ETHINYL ESTRADIOL\NORETHINDRONE ACETATE
     Dosage: UNK
     Dates: end: 202008
  372. LO LOESTRIN FE [Concomitant]
     Active Substance: ETHINYL ESTRADIOL\NORETHINDRONE ACETATE
     Dosage: UNK
     Dates: end: 202008
  373. LO LOESTRIN FE [Concomitant]
     Active Substance: ETHINYL ESTRADIOL\NORETHINDRONE ACETATE
     Dosage: UNK
     Dates: end: 202008
  374. LO LOESTRIN FE [Concomitant]
     Active Substance: ETHINYL ESTRADIOL\NORETHINDRONE ACETATE
     Dosage: UNK
     Dates: end: 202008
  375. LO LOESTRIN FE [Concomitant]
     Active Substance: ETHINYL ESTRADIOL\NORETHINDRONE ACETATE
     Dosage: UNK
     Dates: end: 202008
  376. LO LOESTRIN FE [Concomitant]
     Active Substance: ETHINYL ESTRADIOL\NORETHINDRONE ACETATE
     Dosage: UNK
     Dates: end: 202008
  377. LO LOESTRIN FE [Concomitant]
     Active Substance: ETHINYL ESTRADIOL\NORETHINDRONE ACETATE
     Dosage: UNK
     Dates: end: 202008
  378. LO LOESTRIN FE [Concomitant]
     Active Substance: ETHINYL ESTRADIOL\NORETHINDRONE ACETATE
     Dosage: UNK
     Dates: end: 202008
  379. LO LOESTRIN FE [Concomitant]
     Active Substance: ETHINYL ESTRADIOL\NORETHINDRONE ACETATE
     Dosage: UNK
     Dates: end: 202008
  380. LO LOESTRIN FE [Concomitant]
     Active Substance: ETHINYL ESTRADIOL\NORETHINDRONE ACETATE
     Dosage: UNK
     Dates: end: 202008
  381. LO LOESTRIN FE [Concomitant]
     Active Substance: ETHINYL ESTRADIOL\NORETHINDRONE ACETATE
     Dosage: UNK
     Dates: end: 202008
  382. MAGNESIUM OXIDE [Concomitant]
     Active Substance: MAGNESIUM OXIDE
     Indication: Product used for unknown indication
     Dosage: UNK
  383. MAGNESIUM OXIDE [Concomitant]
     Active Substance: MAGNESIUM OXIDE
  384. MAGNESIUM OXIDE [Concomitant]
     Active Substance: MAGNESIUM OXIDE
  385. MAGNESIUM OXIDE [Concomitant]
     Active Substance: MAGNESIUM OXIDE
  386. MAGNESIUM OXIDE [Concomitant]
     Active Substance: MAGNESIUM OXIDE
  387. MAGNESIUM OXIDE [Concomitant]
     Active Substance: MAGNESIUM OXIDE
  388. MAGNESIUM OXIDE [Concomitant]
     Active Substance: MAGNESIUM OXIDE
  389. MAGNESIUM OXIDE [Concomitant]
     Active Substance: MAGNESIUM OXIDE
  390. MAGNESIUM OXIDE [Concomitant]
     Active Substance: MAGNESIUM OXIDE
  391. MAGNESIUM OXIDE [Concomitant]
     Active Substance: MAGNESIUM OXIDE
  392. MAGNESIUM OXIDE [Concomitant]
     Active Substance: MAGNESIUM OXIDE
  393. MAGNESIUM OXIDE [Concomitant]
     Active Substance: MAGNESIUM OXIDE
  394. MAGNESIUM OXIDE [Concomitant]
     Active Substance: MAGNESIUM OXIDE
  395. MAGNESIUM OXIDE [Concomitant]
     Active Substance: MAGNESIUM OXIDE
  396. MAGNESIUM OXIDE [Concomitant]
     Active Substance: MAGNESIUM OXIDE
  397. MAGNESIUM OXIDE [Concomitant]
     Active Substance: MAGNESIUM OXIDE
  398. MAGNESIUM OXIDE [Concomitant]
     Active Substance: MAGNESIUM OXIDE
  399. MAGNESIUM OXIDE [Concomitant]
     Active Substance: MAGNESIUM OXIDE
  400. MAGNESIUM OXIDE [Concomitant]
     Active Substance: MAGNESIUM OXIDE
  401. MAGNESIUM OXIDE [Concomitant]
     Active Substance: MAGNESIUM OXIDE
  402. MAGNESIUM OXIDE [Concomitant]
     Active Substance: MAGNESIUM OXIDE
  403. MAGNESIUM OXIDE [Concomitant]
     Active Substance: MAGNESIUM OXIDE
  404. MAGNESIUM OXIDE [Concomitant]
     Active Substance: MAGNESIUM OXIDE
  405. MAGNESIUM OXIDE [Concomitant]
     Active Substance: MAGNESIUM OXIDE
  406. MAGNESIUM OXIDE [Concomitant]
     Active Substance: MAGNESIUM OXIDE
  407. MAGNESIUM OXIDE [Concomitant]
     Active Substance: MAGNESIUM OXIDE
  408. MAGNESIUM OXIDE [Concomitant]
     Active Substance: MAGNESIUM OXIDE
  409. MAGNESIUM OXIDE [Concomitant]
     Active Substance: MAGNESIUM OXIDE
  410. MAGNESIUM OXIDE [Concomitant]
     Active Substance: MAGNESIUM OXIDE
  411. MAGNESIUM OXIDE [Concomitant]
     Active Substance: MAGNESIUM OXIDE
  412. MAGNESIUM OXIDE [Concomitant]
     Active Substance: MAGNESIUM OXIDE
  413. MUCINEX [Concomitant]
     Active Substance: GUAIFENESIN
     Indication: Product used for unknown indication
     Dosage: UNK
     Dates: end: 202008
  414. MUCINEX [Concomitant]
     Active Substance: GUAIFENESIN
     Dosage: UNK
     Dates: end: 202008
  415. MUCINEX [Concomitant]
     Active Substance: GUAIFENESIN
     Dosage: UNK
     Dates: end: 202008
  416. MUCINEX [Concomitant]
     Active Substance: GUAIFENESIN
     Dosage: UNK
     Dates: end: 202008
  417. MUCINEX [Concomitant]
     Active Substance: GUAIFENESIN
     Dosage: UNK
     Dates: end: 202008
  418. MUCINEX [Concomitant]
     Active Substance: GUAIFENESIN
     Dosage: UNK
     Dates: end: 202008
  419. MUCINEX [Concomitant]
     Active Substance: GUAIFENESIN
     Dosage: UNK
     Dates: end: 202008
  420. MUCINEX [Concomitant]
     Active Substance: GUAIFENESIN
     Dosage: UNK
     Dates: end: 202008
  421. MUCINEX [Concomitant]
     Active Substance: GUAIFENESIN
     Dosage: UNK
     Dates: end: 202008
  422. MUCINEX [Concomitant]
     Active Substance: GUAIFENESIN
     Dosage: UNK
     Dates: end: 202008
  423. MUCINEX [Concomitant]
     Active Substance: GUAIFENESIN
     Dosage: UNK
     Dates: end: 202008
  424. MUCINEX [Concomitant]
     Active Substance: GUAIFENESIN
     Dosage: UNK
     Dates: end: 202008
  425. MUCINEX [Concomitant]
     Active Substance: GUAIFENESIN
     Dosage: UNK
     Dates: end: 202008
  426. MUCINEX [Concomitant]
     Active Substance: GUAIFENESIN
     Dosage: UNK
     Dates: end: 202008
  427. MUCINEX [Concomitant]
     Active Substance: GUAIFENESIN
     Dosage: UNK
     Dates: end: 202008
  428. MUCINEX [Concomitant]
     Active Substance: GUAIFENESIN
     Dosage: UNK
     Dates: end: 202008
  429. MUCINEX [Concomitant]
     Active Substance: GUAIFENESIN
     Dosage: UNK
     Dates: end: 202008
  430. MUCINEX [Concomitant]
     Active Substance: GUAIFENESIN
     Dosage: UNK
     Dates: end: 202008
  431. MUCINEX [Concomitant]
     Active Substance: GUAIFENESIN
     Dosage: UNK
     Dates: end: 202008
  432. MUCINEX [Concomitant]
     Active Substance: GUAIFENESIN
     Dosage: UNK
     Dates: end: 202008
  433. MUCINEX [Concomitant]
     Active Substance: GUAIFENESIN
     Dosage: UNK
     Dates: end: 202008
  434. MUCINEX [Concomitant]
     Active Substance: GUAIFENESIN
     Dosage: UNK
     Dates: end: 202008
  435. MUCINEX [Concomitant]
     Active Substance: GUAIFENESIN
     Dosage: UNK
     Dates: end: 202008
  436. MUCINEX [Concomitant]
     Active Substance: GUAIFENESIN
     Dosage: UNK
     Dates: end: 202008
  437. MUCINEX [Concomitant]
     Active Substance: GUAIFENESIN
     Dosage: UNK
     Dates: end: 202008
  438. MUCINEX [Concomitant]
     Active Substance: GUAIFENESIN
     Dosage: UNK
     Dates: end: 202008
  439. MUCINEX [Concomitant]
     Active Substance: GUAIFENESIN
     Dosage: UNK
     Dates: end: 202008
  440. MUCINEX [Concomitant]
     Active Substance: GUAIFENESIN
     Dosage: UNK
     Dates: end: 202008
  441. MUCINEX [Concomitant]
     Active Substance: GUAIFENESIN
     Dosage: UNK
     Dates: end: 202008
  442. MUCINEX [Concomitant]
     Active Substance: GUAIFENESIN
     Dosage: UNK
     Dates: end: 202008
  443. MUCINEX [Concomitant]
     Active Substance: GUAIFENESIN
     Dosage: UNK
     Dates: end: 202008
  444. ONEXTON [Concomitant]
     Active Substance: BENZOYL PEROXIDE\CLINDAMYCIN PHOSPHATE
     Indication: Product used for unknown indication
     Dosage: UNK
     Dates: end: 202008
  445. ONEXTON [Concomitant]
     Active Substance: BENZOYL PEROXIDE\CLINDAMYCIN PHOSPHATE
     Dosage: UNK
     Dates: end: 202008
  446. ONEXTON [Concomitant]
     Active Substance: BENZOYL PEROXIDE\CLINDAMYCIN PHOSPHATE
     Dosage: UNK
     Dates: end: 202008
  447. ONEXTON [Concomitant]
     Active Substance: BENZOYL PEROXIDE\CLINDAMYCIN PHOSPHATE
     Dosage: UNK
     Dates: end: 202008
  448. ONEXTON [Concomitant]
     Active Substance: BENZOYL PEROXIDE\CLINDAMYCIN PHOSPHATE
     Dosage: UNK
     Dates: end: 202008
  449. ONEXTON [Concomitant]
     Active Substance: BENZOYL PEROXIDE\CLINDAMYCIN PHOSPHATE
     Dosage: UNK
     Dates: end: 202008
  450. ONEXTON [Concomitant]
     Active Substance: BENZOYL PEROXIDE\CLINDAMYCIN PHOSPHATE
     Dosage: UNK
     Dates: end: 202008
  451. ONEXTON [Concomitant]
     Active Substance: BENZOYL PEROXIDE\CLINDAMYCIN PHOSPHATE
     Dosage: UNK
     Dates: end: 202008
  452. ONEXTON [Concomitant]
     Active Substance: BENZOYL PEROXIDE\CLINDAMYCIN PHOSPHATE
     Dosage: UNK
     Dates: end: 202008
  453. ONEXTON [Concomitant]
     Active Substance: BENZOYL PEROXIDE\CLINDAMYCIN PHOSPHATE
     Dosage: UNK
     Dates: end: 202008
  454. ONEXTON [Concomitant]
     Active Substance: BENZOYL PEROXIDE\CLINDAMYCIN PHOSPHATE
     Dosage: UNK
     Dates: end: 202008
  455. ONEXTON [Concomitant]
     Active Substance: BENZOYL PEROXIDE\CLINDAMYCIN PHOSPHATE
     Dosage: UNK
     Dates: end: 202008
  456. ONEXTON [Concomitant]
     Active Substance: BENZOYL PEROXIDE\CLINDAMYCIN PHOSPHATE
     Dosage: UNK
     Dates: end: 202008
  457. ONEXTON [Concomitant]
     Active Substance: BENZOYL PEROXIDE\CLINDAMYCIN PHOSPHATE
     Dosage: UNK
     Dates: end: 202008
  458. ONEXTON [Concomitant]
     Active Substance: BENZOYL PEROXIDE\CLINDAMYCIN PHOSPHATE
     Dosage: UNK
     Dates: end: 202008
  459. ONEXTON [Concomitant]
     Active Substance: BENZOYL PEROXIDE\CLINDAMYCIN PHOSPHATE
     Dosage: UNK
     Dates: end: 202008
  460. ONEXTON [Concomitant]
     Active Substance: BENZOYL PEROXIDE\CLINDAMYCIN PHOSPHATE
     Dosage: UNK
     Dates: end: 202008
  461. ONEXTON [Concomitant]
     Active Substance: BENZOYL PEROXIDE\CLINDAMYCIN PHOSPHATE
     Dosage: UNK
     Dates: end: 202008
  462. ONEXTON [Concomitant]
     Active Substance: BENZOYL PEROXIDE\CLINDAMYCIN PHOSPHATE
     Dosage: UNK
     Dates: end: 202008
  463. ONEXTON [Concomitant]
     Active Substance: BENZOYL PEROXIDE\CLINDAMYCIN PHOSPHATE
     Dosage: UNK
     Dates: end: 202008
  464. ONEXTON [Concomitant]
     Active Substance: BENZOYL PEROXIDE\CLINDAMYCIN PHOSPHATE
     Dosage: UNK
     Dates: end: 202008
  465. ONEXTON [Concomitant]
     Active Substance: BENZOYL PEROXIDE\CLINDAMYCIN PHOSPHATE
     Dosage: UNK
     Dates: end: 202008
  466. ONEXTON [Concomitant]
     Active Substance: BENZOYL PEROXIDE\CLINDAMYCIN PHOSPHATE
     Dosage: UNK
     Dates: end: 202008
  467. ONEXTON [Concomitant]
     Active Substance: BENZOYL PEROXIDE\CLINDAMYCIN PHOSPHATE
     Dosage: UNK
     Dates: end: 202008
  468. ONEXTON [Concomitant]
     Active Substance: BENZOYL PEROXIDE\CLINDAMYCIN PHOSPHATE
     Dosage: UNK
     Dates: end: 202008
  469. ONEXTON [Concomitant]
     Active Substance: BENZOYL PEROXIDE\CLINDAMYCIN PHOSPHATE
     Dosage: UNK
     Dates: end: 202008
  470. ONEXTON [Concomitant]
     Active Substance: BENZOYL PEROXIDE\CLINDAMYCIN PHOSPHATE
     Dosage: UNK
     Dates: end: 202008
  471. ONEXTON [Concomitant]
     Active Substance: BENZOYL PEROXIDE\CLINDAMYCIN PHOSPHATE
     Dosage: UNK
     Dates: end: 202008
  472. ONEXTON [Concomitant]
     Active Substance: BENZOYL PEROXIDE\CLINDAMYCIN PHOSPHATE
     Dosage: UNK
     Dates: end: 202008
  473. ONEXTON [Concomitant]
     Active Substance: BENZOYL PEROXIDE\CLINDAMYCIN PHOSPHATE
     Dosage: UNK
     Dates: end: 202008
  474. ONEXTON [Concomitant]
     Active Substance: BENZOYL PEROXIDE\CLINDAMYCIN PHOSPHATE
     Dosage: UNK
     Dates: end: 202008
  475. RETIN-A [Concomitant]
     Active Substance: TRETINOIN
     Indication: Product used for unknown indication
     Dosage: UNK
     Dates: end: 202008
  476. RETIN-A [Concomitant]
     Active Substance: TRETINOIN
     Dosage: UNK
     Dates: end: 202008
  477. RETIN-A [Concomitant]
     Active Substance: TRETINOIN
     Dosage: UNK
     Dates: end: 202008
  478. RETIN-A [Concomitant]
     Active Substance: TRETINOIN
     Dosage: UNK
     Dates: end: 202008
  479. RETIN-A [Concomitant]
     Active Substance: TRETINOIN
     Dosage: UNK
     Dates: end: 202008
  480. RETIN-A [Concomitant]
     Active Substance: TRETINOIN
     Dosage: UNK
     Dates: end: 202008
  481. RETIN-A [Concomitant]
     Active Substance: TRETINOIN
     Dosage: UNK
     Dates: end: 202008
  482. RETIN-A [Concomitant]
     Active Substance: TRETINOIN
     Dosage: UNK
     Dates: end: 202008
  483. RETIN-A [Concomitant]
     Active Substance: TRETINOIN
     Dosage: UNK
     Dates: end: 202008
  484. RETIN-A [Concomitant]
     Active Substance: TRETINOIN
     Dosage: UNK
     Dates: end: 202008
  485. RETIN-A [Concomitant]
     Active Substance: TRETINOIN
     Dosage: UNK
     Dates: end: 202008
  486. RETIN-A [Concomitant]
     Active Substance: TRETINOIN
     Dosage: UNK
     Dates: end: 202008
  487. RETIN-A [Concomitant]
     Active Substance: TRETINOIN
     Dosage: UNK
     Dates: end: 202008
  488. RETIN-A [Concomitant]
     Active Substance: TRETINOIN
     Dosage: UNK
     Dates: end: 202008
  489. RETIN-A [Concomitant]
     Active Substance: TRETINOIN
     Dosage: UNK
     Dates: end: 202008
  490. RETIN-A [Concomitant]
     Active Substance: TRETINOIN
     Dosage: UNK
     Dates: end: 202008
  491. RETIN-A [Concomitant]
     Active Substance: TRETINOIN
     Dosage: UNK
     Dates: end: 202008
  492. RETIN-A [Concomitant]
     Active Substance: TRETINOIN
     Dosage: UNK
     Dates: end: 202008
  493. RETIN-A [Concomitant]
     Active Substance: TRETINOIN
     Dosage: UNK
     Dates: end: 202008
  494. RETIN-A [Concomitant]
     Active Substance: TRETINOIN
     Dosage: UNK
     Dates: end: 202008
  495. RETIN-A [Concomitant]
     Active Substance: TRETINOIN
     Dosage: UNK
     Dates: end: 202008
  496. RETIN-A [Concomitant]
     Active Substance: TRETINOIN
     Dosage: UNK
     Dates: end: 202008
  497. RETIN-A [Concomitant]
     Active Substance: TRETINOIN
     Dosage: UNK
     Dates: end: 202008
  498. RETIN-A [Concomitant]
     Active Substance: TRETINOIN
     Dosage: UNK
     Dates: end: 202008
  499. RETIN-A [Concomitant]
     Active Substance: TRETINOIN
     Dosage: UNK
     Dates: end: 202008
  500. RETIN-A [Concomitant]
     Active Substance: TRETINOIN
     Dosage: UNK
     Dates: end: 202008
  501. RETIN-A [Concomitant]
     Active Substance: TRETINOIN
     Dosage: UNK
     Dates: end: 202008
  502. RETIN-A [Concomitant]
     Active Substance: TRETINOIN
     Dosage: UNK
     Dates: end: 202008
  503. RETIN-A [Concomitant]
     Active Substance: TRETINOIN
     Dosage: UNK
     Dates: end: 202008
  504. RETIN-A [Concomitant]
     Active Substance: TRETINOIN
     Dosage: UNK
     Dates: end: 202008
  505. RETIN-A [Concomitant]
     Active Substance: TRETINOIN
     Dosage: UNK
     Dates: end: 202008
  506. RITALIN [Concomitant]
     Active Substance: METHYLPHENIDATE HYDROCHLORIDE
     Indication: Product used for unknown indication
     Dosage: UNK
     Dates: end: 202008
  507. RITALIN [Concomitant]
     Active Substance: METHYLPHENIDATE HYDROCHLORIDE
     Dosage: UNK
     Dates: end: 202008
  508. RITALIN [Concomitant]
     Active Substance: METHYLPHENIDATE HYDROCHLORIDE
     Dosage: UNK
     Dates: end: 202008
  509. RITALIN [Concomitant]
     Active Substance: METHYLPHENIDATE HYDROCHLORIDE
     Dosage: UNK
     Dates: end: 202008
  510. RITALIN [Concomitant]
     Active Substance: METHYLPHENIDATE HYDROCHLORIDE
     Dosage: UNK
     Dates: end: 202008
  511. RITALIN [Concomitant]
     Active Substance: METHYLPHENIDATE HYDROCHLORIDE
     Dosage: UNK
     Dates: end: 202008
  512. RITALIN [Concomitant]
     Active Substance: METHYLPHENIDATE HYDROCHLORIDE
     Dosage: UNK
     Dates: end: 202008
  513. RITALIN [Concomitant]
     Active Substance: METHYLPHENIDATE HYDROCHLORIDE
     Dosage: UNK
     Dates: end: 202008
  514. RITALIN [Concomitant]
     Active Substance: METHYLPHENIDATE HYDROCHLORIDE
     Dosage: UNK
     Dates: end: 202008
  515. RITALIN [Concomitant]
     Active Substance: METHYLPHENIDATE HYDROCHLORIDE
     Dosage: UNK
     Dates: end: 202008
  516. RITALIN [Concomitant]
     Active Substance: METHYLPHENIDATE HYDROCHLORIDE
     Dosage: UNK
     Dates: end: 202008
  517. RITALIN [Concomitant]
     Active Substance: METHYLPHENIDATE HYDROCHLORIDE
     Dosage: UNK
     Dates: end: 202008
  518. RITALIN [Concomitant]
     Active Substance: METHYLPHENIDATE HYDROCHLORIDE
     Dosage: UNK
     Dates: end: 202008
  519. RITALIN [Concomitant]
     Active Substance: METHYLPHENIDATE HYDROCHLORIDE
     Dosage: UNK
     Dates: end: 202008
  520. RITALIN [Concomitant]
     Active Substance: METHYLPHENIDATE HYDROCHLORIDE
     Dosage: UNK
     Dates: end: 202008
  521. RITALIN [Concomitant]
     Active Substance: METHYLPHENIDATE HYDROCHLORIDE
     Dosage: UNK
     Dates: end: 202008
  522. RITALIN [Concomitant]
     Active Substance: METHYLPHENIDATE HYDROCHLORIDE
     Dosage: UNK
     Dates: end: 202008
  523. RITALIN [Concomitant]
     Active Substance: METHYLPHENIDATE HYDROCHLORIDE
     Dosage: UNK
     Dates: end: 202008
  524. RITALIN [Concomitant]
     Active Substance: METHYLPHENIDATE HYDROCHLORIDE
     Dosage: UNK
     Dates: end: 202008
  525. RITALIN [Concomitant]
     Active Substance: METHYLPHENIDATE HYDROCHLORIDE
     Dosage: UNK
     Dates: end: 202008
  526. RITALIN [Concomitant]
     Active Substance: METHYLPHENIDATE HYDROCHLORIDE
     Dosage: UNK
     Dates: end: 202008
  527. RITALIN [Concomitant]
     Active Substance: METHYLPHENIDATE HYDROCHLORIDE
     Dosage: UNK
     Dates: end: 202008
  528. RITALIN [Concomitant]
     Active Substance: METHYLPHENIDATE HYDROCHLORIDE
     Dosage: UNK
     Dates: end: 202008
  529. RITALIN [Concomitant]
     Active Substance: METHYLPHENIDATE HYDROCHLORIDE
     Dosage: UNK
     Dates: end: 202008
  530. RITALIN [Concomitant]
     Active Substance: METHYLPHENIDATE HYDROCHLORIDE
     Dosage: UNK
     Dates: end: 202008
  531. RITALIN [Concomitant]
     Active Substance: METHYLPHENIDATE HYDROCHLORIDE
     Dosage: UNK
     Dates: end: 202008
  532. RITALIN [Concomitant]
     Active Substance: METHYLPHENIDATE HYDROCHLORIDE
     Dosage: UNK
     Dates: end: 202008
  533. RITALIN [Concomitant]
     Active Substance: METHYLPHENIDATE HYDROCHLORIDE
     Dosage: UNK
     Dates: end: 202008
  534. RITALIN [Concomitant]
     Active Substance: METHYLPHENIDATE HYDROCHLORIDE
     Dosage: UNK
     Dates: end: 202008
  535. RITALIN [Concomitant]
     Active Substance: METHYLPHENIDATE HYDROCHLORIDE
     Dosage: UNK
     Dates: end: 202008
  536. RITALIN [Concomitant]
     Active Substance: METHYLPHENIDATE HYDROCHLORIDE
     Dosage: UNK
     Dates: end: 202008
  537. FERROUS SULFATE [Concomitant]
     Active Substance: FERROUS SULFATE
     Indication: Product used for unknown indication
     Dosage: UNK
  538. FERROUS SULFATE [Concomitant]
     Active Substance: FERROUS SULFATE
  539. FERROUS SULFATE [Concomitant]
     Active Substance: FERROUS SULFATE
  540. FERROUS SULFATE [Concomitant]
     Active Substance: FERROUS SULFATE
  541. FERROUS SULFATE [Concomitant]
     Active Substance: FERROUS SULFATE
  542. FERROUS SULFATE [Concomitant]
     Active Substance: FERROUS SULFATE
  543. FERROUS SULFATE [Concomitant]
     Active Substance: FERROUS SULFATE
  544. FERROUS SULFATE [Concomitant]
     Active Substance: FERROUS SULFATE
  545. FERROUS SULFATE [Concomitant]
     Active Substance: FERROUS SULFATE
  546. FERROUS SULFATE [Concomitant]
     Active Substance: FERROUS SULFATE
  547. FERROUS SULFATE [Concomitant]
     Active Substance: FERROUS SULFATE
  548. FERROUS SULFATE [Concomitant]
     Active Substance: FERROUS SULFATE
  549. FERROUS SULFATE [Concomitant]
     Active Substance: FERROUS SULFATE
  550. FERROUS SULFATE [Concomitant]
     Active Substance: FERROUS SULFATE
  551. FERROUS SULFATE [Concomitant]
     Active Substance: FERROUS SULFATE
  552. FERROUS SULFATE [Concomitant]
     Active Substance: FERROUS SULFATE
  553. FERROUS SULFATE [Concomitant]
     Active Substance: FERROUS SULFATE
  554. FERROUS SULFATE [Concomitant]
     Active Substance: FERROUS SULFATE
  555. FERROUS SULFATE [Concomitant]
     Active Substance: FERROUS SULFATE
  556. FERROUS SULFATE [Concomitant]
     Active Substance: FERROUS SULFATE
  557. FERROUS SULFATE [Concomitant]
     Active Substance: FERROUS SULFATE
  558. FERROUS SULFATE [Concomitant]
     Active Substance: FERROUS SULFATE
  559. FERROUS SULFATE [Concomitant]
     Active Substance: FERROUS SULFATE
  560. FERROUS SULFATE [Concomitant]
     Active Substance: FERROUS SULFATE
  561. FERROUS SULFATE [Concomitant]
     Active Substance: FERROUS SULFATE
  562. FERROUS SULFATE [Concomitant]
     Active Substance: FERROUS SULFATE
  563. FERROUS SULFATE [Concomitant]
     Active Substance: FERROUS SULFATE
  564. FERROUS SULFATE [Concomitant]
     Active Substance: FERROUS SULFATE
  565. FERROUS SULFATE [Concomitant]
     Active Substance: FERROUS SULFATE
  566. FERROUS SULFATE [Concomitant]
     Active Substance: FERROUS SULFATE
  567. FERROUS SULFATE [Concomitant]
     Active Substance: FERROUS SULFATE
  568. VITAMIN B12 [Concomitant]
     Active Substance: CYANOCOBALAMIN
     Indication: Product used for unknown indication
     Dosage: UNK
  569. VITAMIN B12 [Concomitant]
     Active Substance: CYANOCOBALAMIN
  570. VITAMIN B12 [Concomitant]
     Active Substance: CYANOCOBALAMIN
  571. VITAMIN B12 [Concomitant]
     Active Substance: CYANOCOBALAMIN
  572. VITAMIN B12 [Concomitant]
     Active Substance: CYANOCOBALAMIN
  573. VITAMIN B12 [Concomitant]
     Active Substance: CYANOCOBALAMIN
  574. VITAMIN B12 [Concomitant]
     Active Substance: CYANOCOBALAMIN
  575. VITAMIN B12 [Concomitant]
     Active Substance: CYANOCOBALAMIN
  576. VITAMIN B12 [Concomitant]
     Active Substance: CYANOCOBALAMIN
  577. VITAMIN B12 [Concomitant]
     Active Substance: CYANOCOBALAMIN
  578. VITAMIN B12 [Concomitant]
     Active Substance: CYANOCOBALAMIN
  579. VITAMIN B12 [Concomitant]
     Active Substance: CYANOCOBALAMIN
  580. VITAMIN B12 [Concomitant]
     Active Substance: CYANOCOBALAMIN
  581. VITAMIN B12 [Concomitant]
     Active Substance: CYANOCOBALAMIN
  582. VITAMIN B12 [Concomitant]
     Active Substance: CYANOCOBALAMIN
  583. VITAMIN B12 [Concomitant]
     Active Substance: CYANOCOBALAMIN
  584. VITAMIN B12 [Concomitant]
     Active Substance: CYANOCOBALAMIN
  585. VITAMIN B12 [Concomitant]
     Active Substance: CYANOCOBALAMIN
  586. VITAMIN B12 [Concomitant]
     Active Substance: CYANOCOBALAMIN
  587. VITAMIN B12 [Concomitant]
     Active Substance: CYANOCOBALAMIN
  588. VITAMIN B12 [Concomitant]
     Active Substance: CYANOCOBALAMIN
  589. VITAMIN B12 [Concomitant]
     Active Substance: CYANOCOBALAMIN
  590. VITAMIN B12 [Concomitant]
     Active Substance: CYANOCOBALAMIN
  591. VITAMIN B12 [Concomitant]
     Active Substance: CYANOCOBALAMIN
  592. VITAMIN B12 [Concomitant]
     Active Substance: CYANOCOBALAMIN
  593. VITAMIN B12 [Concomitant]
     Active Substance: CYANOCOBALAMIN
  594. VITAMIN B12 [Concomitant]
     Active Substance: CYANOCOBALAMIN
  595. VITAMIN B12 [Concomitant]
     Active Substance: CYANOCOBALAMIN
  596. VITAMIN B12 [Concomitant]
     Active Substance: CYANOCOBALAMIN
  597. VITAMIN B12 [Concomitant]
     Active Substance: CYANOCOBALAMIN
  598. VITAMIN B12 [Concomitant]
     Active Substance: CYANOCOBALAMIN
  599. VITAMIN C [Concomitant]
     Active Substance: ASCORBIC ACID
     Indication: Product used for unknown indication
     Dosage: UNK
  600. VITAMIN C [Concomitant]
     Active Substance: ASCORBIC ACID
  601. VITAMIN C [Concomitant]
     Active Substance: ASCORBIC ACID
  602. VITAMIN C [Concomitant]
     Active Substance: ASCORBIC ACID
  603. VITAMIN C [Concomitant]
     Active Substance: ASCORBIC ACID
  604. VITAMIN C [Concomitant]
     Active Substance: ASCORBIC ACID
  605. VITAMIN C [Concomitant]
     Active Substance: ASCORBIC ACID
  606. VITAMIN C [Concomitant]
     Active Substance: ASCORBIC ACID
  607. VITAMIN C [Concomitant]
     Active Substance: ASCORBIC ACID
  608. VITAMIN C [Concomitant]
     Active Substance: ASCORBIC ACID
  609. VITAMIN C [Concomitant]
     Active Substance: ASCORBIC ACID
  610. VITAMIN C [Concomitant]
     Active Substance: ASCORBIC ACID
  611. VITAMIN C [Concomitant]
     Active Substance: ASCORBIC ACID
  612. VITAMIN C [Concomitant]
     Active Substance: ASCORBIC ACID
  613. VITAMIN C [Concomitant]
     Active Substance: ASCORBIC ACID
  614. VITAMIN C [Concomitant]
     Active Substance: ASCORBIC ACID
  615. VITAMIN C [Concomitant]
     Active Substance: ASCORBIC ACID
  616. VITAMIN C [Concomitant]
     Active Substance: ASCORBIC ACID
  617. VITAMIN C [Concomitant]
     Active Substance: ASCORBIC ACID
  618. VITAMIN C [Concomitant]
     Active Substance: ASCORBIC ACID
  619. VITAMIN C [Concomitant]
     Active Substance: ASCORBIC ACID
  620. VITAMIN C [Concomitant]
     Active Substance: ASCORBIC ACID
  621. VITAMIN C [Concomitant]
     Active Substance: ASCORBIC ACID
  622. VITAMIN C [Concomitant]
     Active Substance: ASCORBIC ACID
  623. VITAMIN C [Concomitant]
     Active Substance: ASCORBIC ACID
  624. VITAMIN C [Concomitant]
     Active Substance: ASCORBIC ACID
  625. VITAMIN C [Concomitant]
     Active Substance: ASCORBIC ACID
  626. VITAMIN C [Concomitant]
     Active Substance: ASCORBIC ACID
  627. VITAMIN C [Concomitant]
     Active Substance: ASCORBIC ACID
  628. VITAMIN C [Concomitant]
     Active Substance: ASCORBIC ACID
  629. VITAMIN C [Concomitant]
     Active Substance: ASCORBIC ACID
  630. WAKIX [Concomitant]
     Active Substance: PITOLISANT HYDROCHLORIDE
     Indication: Product used for unknown indication
     Dosage: UNK
     Dates: end: 202008
  631. WAKIX [Concomitant]
     Active Substance: PITOLISANT HYDROCHLORIDE
     Dosage: UNK
     Dates: end: 202008
  632. WAKIX [Concomitant]
     Active Substance: PITOLISANT HYDROCHLORIDE
     Dosage: UNK
     Dates: end: 202008
  633. WAKIX [Concomitant]
     Active Substance: PITOLISANT HYDROCHLORIDE
     Dosage: UNK
     Dates: end: 202008
  634. WAKIX [Concomitant]
     Active Substance: PITOLISANT HYDROCHLORIDE
     Dosage: UNK
     Dates: end: 202008
  635. WAKIX [Concomitant]
     Active Substance: PITOLISANT HYDROCHLORIDE
     Dosage: UNK
     Dates: end: 202008
  636. WAKIX [Concomitant]
     Active Substance: PITOLISANT HYDROCHLORIDE
     Dosage: UNK
     Dates: end: 202008
  637. WAKIX [Concomitant]
     Active Substance: PITOLISANT HYDROCHLORIDE
     Dosage: UNK
     Dates: end: 202008
  638. WAKIX [Concomitant]
     Active Substance: PITOLISANT HYDROCHLORIDE
     Dosage: UNK
     Dates: end: 202008
  639. WAKIX [Concomitant]
     Active Substance: PITOLISANT HYDROCHLORIDE
     Dosage: UNK
     Dates: end: 202008
  640. WAKIX [Concomitant]
     Active Substance: PITOLISANT HYDROCHLORIDE
     Dosage: UNK
     Dates: end: 202008
  641. WAKIX [Concomitant]
     Active Substance: PITOLISANT HYDROCHLORIDE
     Dosage: UNK
     Dates: end: 202008
  642. WAKIX [Concomitant]
     Active Substance: PITOLISANT HYDROCHLORIDE
     Dosage: UNK
     Dates: end: 202008
  643. WAKIX [Concomitant]
     Active Substance: PITOLISANT HYDROCHLORIDE
     Dosage: UNK
     Dates: end: 202008
  644. WAKIX [Concomitant]
     Active Substance: PITOLISANT HYDROCHLORIDE
     Dosage: UNK
     Dates: end: 202008
  645. WAKIX [Concomitant]
     Active Substance: PITOLISANT HYDROCHLORIDE
     Dosage: UNK
     Dates: end: 202008
  646. WAKIX [Concomitant]
     Active Substance: PITOLISANT HYDROCHLORIDE
     Dosage: UNK
     Dates: end: 202008
  647. WAKIX [Concomitant]
     Active Substance: PITOLISANT HYDROCHLORIDE
     Dosage: UNK
     Dates: end: 202008
  648. WAKIX [Concomitant]
     Active Substance: PITOLISANT HYDROCHLORIDE
     Dosage: UNK
     Dates: end: 202008
  649. WAKIX [Concomitant]
     Active Substance: PITOLISANT HYDROCHLORIDE
     Dosage: UNK
     Dates: end: 202008
  650. WAKIX [Concomitant]
     Active Substance: PITOLISANT HYDROCHLORIDE
     Dosage: UNK
     Dates: end: 202008
  651. WAKIX [Concomitant]
     Active Substance: PITOLISANT HYDROCHLORIDE
     Dosage: UNK
     Dates: end: 202008
  652. WAKIX [Concomitant]
     Active Substance: PITOLISANT HYDROCHLORIDE
     Dosage: UNK
     Dates: end: 202008
  653. WAKIX [Concomitant]
     Active Substance: PITOLISANT HYDROCHLORIDE
     Dosage: UNK
     Dates: end: 202008
  654. WAKIX [Concomitant]
     Active Substance: PITOLISANT HYDROCHLORIDE
     Dosage: UNK
     Dates: end: 202008
  655. WAKIX [Concomitant]
     Active Substance: PITOLISANT HYDROCHLORIDE
     Dosage: UNK
     Dates: end: 202008
  656. WAKIX [Concomitant]
     Active Substance: PITOLISANT HYDROCHLORIDE
     Dosage: UNK
     Dates: end: 202008
  657. WAKIX [Concomitant]
     Active Substance: PITOLISANT HYDROCHLORIDE
     Dosage: UNK
     Dates: end: 202008
  658. WAKIX [Concomitant]
     Active Substance: PITOLISANT HYDROCHLORIDE
     Dosage: UNK
     Dates: end: 202008
  659. WAKIX [Concomitant]
     Active Substance: PITOLISANT HYDROCHLORIDE
     Dosage: UNK
     Dates: end: 202008
  660. WAKIX [Concomitant]
     Active Substance: PITOLISANT HYDROCHLORIDE
     Dosage: UNK
     Dates: end: 202008
  661. COENZYME Q10 [Concomitant]
     Active Substance: DIETARY SUPPLEMENT\UBIDECARENONE
     Dosage: UNK
  662. COENZYME Q10 [Concomitant]
     Active Substance: DIETARY SUPPLEMENT\UBIDECARENONE
  663. COENZYME Q10 [Concomitant]
     Active Substance: DIETARY SUPPLEMENT\UBIDECARENONE
  664. COENZYME Q10 [Concomitant]
     Active Substance: DIETARY SUPPLEMENT\UBIDECARENONE
  665. COENZYME Q10 [Concomitant]
     Active Substance: DIETARY SUPPLEMENT\UBIDECARENONE
  666. COENZYME Q10 [Concomitant]
     Active Substance: DIETARY SUPPLEMENT\UBIDECARENONE
  667. COENZYME Q10 [Concomitant]
     Active Substance: DIETARY SUPPLEMENT\UBIDECARENONE
  668. COENZYME Q10 [Concomitant]
     Active Substance: DIETARY SUPPLEMENT\UBIDECARENONE
  669. COENZYME Q10 [Concomitant]
     Active Substance: DIETARY SUPPLEMENT\UBIDECARENONE
  670. COENZYME Q10 [Concomitant]
     Active Substance: DIETARY SUPPLEMENT\UBIDECARENONE
  671. COENZYME Q10 [Concomitant]
     Active Substance: DIETARY SUPPLEMENT\UBIDECARENONE
  672. COENZYME Q10 [Concomitant]
     Active Substance: DIETARY SUPPLEMENT\UBIDECARENONE
  673. COENZYME Q10 [Concomitant]
     Active Substance: DIETARY SUPPLEMENT\UBIDECARENONE
  674. COENZYME Q10 [Concomitant]
     Active Substance: DIETARY SUPPLEMENT\UBIDECARENONE
  675. COENZYME Q10 [Concomitant]
     Active Substance: DIETARY SUPPLEMENT\UBIDECARENONE
  676. COENZYME Q10 [Concomitant]
     Active Substance: DIETARY SUPPLEMENT\UBIDECARENONE
  677. COENZYME Q10 [Concomitant]
     Active Substance: DIETARY SUPPLEMENT\UBIDECARENONE
  678. COENZYME Q10 [Concomitant]
     Active Substance: DIETARY SUPPLEMENT\UBIDECARENONE
  679. COENZYME Q10 [Concomitant]
     Active Substance: DIETARY SUPPLEMENT\UBIDECARENONE
  680. COENZYME Q10 [Concomitant]
     Active Substance: DIETARY SUPPLEMENT\UBIDECARENONE
  681. COENZYME Q10 [Concomitant]
     Active Substance: DIETARY SUPPLEMENT\UBIDECARENONE
  682. COENZYME Q10 [Concomitant]
     Active Substance: DIETARY SUPPLEMENT\UBIDECARENONE
  683. COENZYME Q10 [Concomitant]
     Active Substance: DIETARY SUPPLEMENT\UBIDECARENONE
  684. COENZYME Q10 [Concomitant]
     Active Substance: DIETARY SUPPLEMENT\UBIDECARENONE
  685. COENZYME Q10 [Concomitant]
     Active Substance: DIETARY SUPPLEMENT\UBIDECARENONE
  686. COENZYME Q10 [Concomitant]
     Active Substance: DIETARY SUPPLEMENT\UBIDECARENONE
  687. COENZYME Q10 [Concomitant]
     Active Substance: DIETARY SUPPLEMENT\UBIDECARENONE
  688. COENZYME Q10 [Concomitant]
     Active Substance: DIETARY SUPPLEMENT\UBIDECARENONE
  689. COENZYME Q10 [Concomitant]
     Active Substance: DIETARY SUPPLEMENT\UBIDECARENONE
  690. COENZYME Q10 [Concomitant]
     Active Substance: DIETARY SUPPLEMENT\UBIDECARENONE
  691. COENZYME Q10 [Concomitant]
     Active Substance: DIETARY SUPPLEMENT\UBIDECARENONE
  692. .GAMMA.-AMINOBUTYRIC ACID [Concomitant]
     Active Substance: .GAMMA.-AMINOBUTYRIC ACID
     Indication: Product used for unknown indication
  693. .GAMMA.-AMINOBUTYRIC ACID [Concomitant]
     Active Substance: .GAMMA.-AMINOBUTYRIC ACID
  694. .GAMMA.-AMINOBUTYRIC ACID [Concomitant]
     Active Substance: .GAMMA.-AMINOBUTYRIC ACID
  695. .GAMMA.-AMINOBUTYRIC ACID [Concomitant]
     Active Substance: .GAMMA.-AMINOBUTYRIC ACID
  696. .GAMMA.-AMINOBUTYRIC ACID [Concomitant]
     Active Substance: .GAMMA.-AMINOBUTYRIC ACID
  697. .GAMMA.-AMINOBUTYRIC ACID [Concomitant]
     Active Substance: .GAMMA.-AMINOBUTYRIC ACID
  698. .GAMMA.-AMINOBUTYRIC ACID [Concomitant]
     Active Substance: .GAMMA.-AMINOBUTYRIC ACID
  699. .GAMMA.-AMINOBUTYRIC ACID [Concomitant]
     Active Substance: .GAMMA.-AMINOBUTYRIC ACID
  700. .GAMMA.-AMINOBUTYRIC ACID [Concomitant]
     Active Substance: .GAMMA.-AMINOBUTYRIC ACID
  701. .GAMMA.-AMINOBUTYRIC ACID [Concomitant]
     Active Substance: .GAMMA.-AMINOBUTYRIC ACID
  702. .GAMMA.-AMINOBUTYRIC ACID [Concomitant]
     Active Substance: .GAMMA.-AMINOBUTYRIC ACID
  703. .GAMMA.-AMINOBUTYRIC ACID [Concomitant]
     Active Substance: .GAMMA.-AMINOBUTYRIC ACID
  704. .GAMMA.-AMINOBUTYRIC ACID [Concomitant]
     Active Substance: .GAMMA.-AMINOBUTYRIC ACID
  705. .GAMMA.-AMINOBUTYRIC ACID [Concomitant]
     Active Substance: .GAMMA.-AMINOBUTYRIC ACID
  706. .GAMMA.-AMINOBUTYRIC ACID [Concomitant]
     Active Substance: .GAMMA.-AMINOBUTYRIC ACID
  707. .GAMMA.-AMINOBUTYRIC ACID [Concomitant]
     Active Substance: .GAMMA.-AMINOBUTYRIC ACID
  708. .GAMMA.-AMINOBUTYRIC ACID [Concomitant]
     Active Substance: .GAMMA.-AMINOBUTYRIC ACID
  709. .GAMMA.-AMINOBUTYRIC ACID [Concomitant]
     Active Substance: .GAMMA.-AMINOBUTYRIC ACID
  710. .GAMMA.-AMINOBUTYRIC ACID [Concomitant]
     Active Substance: .GAMMA.-AMINOBUTYRIC ACID
  711. .GAMMA.-AMINOBUTYRIC ACID [Concomitant]
     Active Substance: .GAMMA.-AMINOBUTYRIC ACID
  712. .GAMMA.-AMINOBUTYRIC ACID [Concomitant]
     Active Substance: .GAMMA.-AMINOBUTYRIC ACID
  713. .GAMMA.-AMINOBUTYRIC ACID [Concomitant]
     Active Substance: .GAMMA.-AMINOBUTYRIC ACID
  714. .GAMMA.-AMINOBUTYRIC ACID [Concomitant]
     Active Substance: .GAMMA.-AMINOBUTYRIC ACID
  715. .GAMMA.-AMINOBUTYRIC ACID [Concomitant]
     Active Substance: .GAMMA.-AMINOBUTYRIC ACID
  716. .GAMMA.-AMINOBUTYRIC ACID [Concomitant]
     Active Substance: .GAMMA.-AMINOBUTYRIC ACID
  717. .GAMMA.-AMINOBUTYRIC ACID [Concomitant]
     Active Substance: .GAMMA.-AMINOBUTYRIC ACID
  718. .GAMMA.-AMINOBUTYRIC ACID [Concomitant]
     Active Substance: .GAMMA.-AMINOBUTYRIC ACID
  719. .GAMMA.-AMINOBUTYRIC ACID [Concomitant]
     Active Substance: .GAMMA.-AMINOBUTYRIC ACID
  720. .GAMMA.-AMINOBUTYRIC ACID [Concomitant]
     Active Substance: .GAMMA.-AMINOBUTYRIC ACID
  721. .GAMMA.-AMINOBUTYRIC ACID [Concomitant]
     Active Substance: .GAMMA.-AMINOBUTYRIC ACID
  722. .GAMMA.-AMINOBUTYRIC ACID [Concomitant]
     Active Substance: .GAMMA.-AMINOBUTYRIC ACID
  723. MIRTAZAPINE [Concomitant]
     Active Substance: MIRTAZAPINE
     Indication: Product used for unknown indication
     Dosage: UNK
  724. MIRTAZAPINE [Concomitant]
     Active Substance: MIRTAZAPINE
  725. MIRTAZAPINE [Concomitant]
     Active Substance: MIRTAZAPINE
  726. MIRTAZAPINE [Concomitant]
     Active Substance: MIRTAZAPINE
  727. MIRTAZAPINE [Concomitant]
     Active Substance: MIRTAZAPINE
  728. MIRTAZAPINE [Concomitant]
     Active Substance: MIRTAZAPINE
  729. MIRTAZAPINE [Concomitant]
     Active Substance: MIRTAZAPINE
  730. MIRTAZAPINE [Concomitant]
     Active Substance: MIRTAZAPINE
  731. MIRTAZAPINE [Concomitant]
     Active Substance: MIRTAZAPINE
  732. MIRTAZAPINE [Concomitant]
     Active Substance: MIRTAZAPINE
  733. MIRTAZAPINE [Concomitant]
     Active Substance: MIRTAZAPINE
  734. MIRTAZAPINE [Concomitant]
     Active Substance: MIRTAZAPINE
  735. MIRTAZAPINE [Concomitant]
     Active Substance: MIRTAZAPINE
  736. MIRTAZAPINE [Concomitant]
     Active Substance: MIRTAZAPINE
  737. MIRTAZAPINE [Concomitant]
     Active Substance: MIRTAZAPINE
  738. MIRTAZAPINE [Concomitant]
     Active Substance: MIRTAZAPINE
  739. MIRTAZAPINE [Concomitant]
     Active Substance: MIRTAZAPINE
  740. MIRTAZAPINE [Concomitant]
     Active Substance: MIRTAZAPINE
  741. MIRTAZAPINE [Concomitant]
     Active Substance: MIRTAZAPINE
  742. MIRTAZAPINE [Concomitant]
     Active Substance: MIRTAZAPINE
  743. MIRTAZAPINE [Concomitant]
     Active Substance: MIRTAZAPINE
  744. MIRTAZAPINE [Concomitant]
     Active Substance: MIRTAZAPINE
  745. MIRTAZAPINE [Concomitant]
     Active Substance: MIRTAZAPINE
  746. MIRTAZAPINE [Concomitant]
     Active Substance: MIRTAZAPINE
  747. MIRTAZAPINE [Concomitant]
     Active Substance: MIRTAZAPINE
  748. MIRTAZAPINE [Concomitant]
     Active Substance: MIRTAZAPINE
  749. MIRTAZAPINE [Concomitant]
     Active Substance: MIRTAZAPINE
  750. MIRTAZAPINE [Concomitant]
     Active Substance: MIRTAZAPINE
  751. MIRTAZAPINE [Concomitant]
     Active Substance: MIRTAZAPINE
  752. MIRTAZAPINE [Concomitant]
     Active Substance: MIRTAZAPINE
  753. MIRTAZAPINE [Concomitant]
     Active Substance: MIRTAZAPINE
  754. SLYND [Concomitant]
     Active Substance: DROSPIRENONE
     Indication: Product used for unknown indication
     Dosage: UNK
  755. SLYND [Concomitant]
     Active Substance: DROSPIRENONE
  756. SLYND [Concomitant]
     Active Substance: DROSPIRENONE
  757. SLYND [Concomitant]
     Active Substance: DROSPIRENONE
  758. SLYND [Concomitant]
     Active Substance: DROSPIRENONE
  759. SLYND [Concomitant]
     Active Substance: DROSPIRENONE
  760. SLYND [Concomitant]
     Active Substance: DROSPIRENONE
  761. SLYND [Concomitant]
     Active Substance: DROSPIRENONE
  762. SLYND [Concomitant]
     Active Substance: DROSPIRENONE
  763. SLYND [Concomitant]
     Active Substance: DROSPIRENONE
  764. SLYND [Concomitant]
     Active Substance: DROSPIRENONE
  765. SLYND [Concomitant]
     Active Substance: DROSPIRENONE
  766. SLYND [Concomitant]
     Active Substance: DROSPIRENONE
  767. SLYND [Concomitant]
     Active Substance: DROSPIRENONE
  768. SLYND [Concomitant]
     Active Substance: DROSPIRENONE
  769. SLYND [Concomitant]
     Active Substance: DROSPIRENONE
  770. SLYND [Concomitant]
     Active Substance: DROSPIRENONE
  771. SLYND [Concomitant]
     Active Substance: DROSPIRENONE
  772. SLYND [Concomitant]
     Active Substance: DROSPIRENONE
  773. SLYND [Concomitant]
     Active Substance: DROSPIRENONE
  774. SLYND [Concomitant]
     Active Substance: DROSPIRENONE
  775. SLYND [Concomitant]
     Active Substance: DROSPIRENONE
  776. SLYND [Concomitant]
     Active Substance: DROSPIRENONE
  777. SLYND [Concomitant]
     Active Substance: DROSPIRENONE
  778. SLYND [Concomitant]
     Active Substance: DROSPIRENONE
  779. SLYND [Concomitant]
     Active Substance: DROSPIRENONE
  780. SLYND [Concomitant]
     Active Substance: DROSPIRENONE
  781. SLYND [Concomitant]
     Active Substance: DROSPIRENONE
  782. SLYND [Concomitant]
     Active Substance: DROSPIRENONE
  783. SLYND [Concomitant]
     Active Substance: DROSPIRENONE
  784. SLYND [Concomitant]
     Active Substance: DROSPIRENONE

REACTIONS (5)
  - Seizure [Recovered/Resolved]
  - Drug tolerance [Unknown]
  - Hypersensitivity [Unknown]
  - Extra dose administered [Unknown]
  - Product administration interrupted [Unknown]

NARRATIVE: CASE EVENT DATE: 20200301
